FAERS Safety Report 22020675 (Version 3)
Quarter: 2023Q2

REPORT INFORMATION
  Report Type: Other
  Country: GB (occurrence: GB)
  Receive Date: 20230222
  Receipt Date: 20230502
  Transmission Date: 20230721
  Serious: Yes (Death, Hospitalization, Other)
  Sender: FDA-Public Use
  Company Number: GB-CELLTRION INC.-2022GB022269

PATIENT

DRUGS (843)
  1. TRASTUZUMAB [Suspect]
     Active Substance: TRASTUZUMAB
     Indication: Breast cancer metastatic
     Dosage: 609 MG, 2/W, (CUMULATIVE DOSE OF FIRST REACTION: 5575.25 MG)
     Route: 042
     Dates: start: 20150930
  2. TRASTUZUMAB [Suspect]
     Active Substance: TRASTUZUMAB
     Dosage: 609 MG, Q3W (1799.20 MG), (CUMULATIVE DOSE TO FIRST REACTION: 929.2083 MG)
     Route: 042
     Dates: start: 20150930
  3. TRASTUZUMAB [Suspect]
     Active Substance: TRASTUZUMAB
     Dosage: 609 MILLIGRAM, Q3W (1799.20 MG)/30-SEP-2015
     Route: 042
     Dates: start: 20150930
  4. TRASTUZUMAB [Suspect]
     Active Substance: TRASTUZUMAB
     Dosage: 1218 MILLIGRAM, QWK (609MG, 2/W)
     Route: 042
     Dates: start: 20150930
  5. TRASTUZUMAB [Suspect]
     Active Substance: TRASTUZUMAB
     Dosage: 609 MG, EVERY 3 WEEKS (CUMULATIVE DOSE FORM: 1799.20 MG)
     Route: 042
     Dates: start: 20150930
  6. TRASTUZUMAB [Suspect]
     Active Substance: TRASTUZUMAB
     Dosage: 1218 MG
     Dates: start: 20151130
  7. TRASTUZUMAB [Suspect]
     Active Substance: TRASTUZUMAB
     Dosage: 609 MG, 609 MILLIGRAM, Q3WK (34482.207 MG)
  8. TRASTUZUMAB [Suspect]
     Active Substance: TRASTUZUMAB
     Dosage: 1218 MILLIGRAM, QWK (206893.25 MG)
     Route: 042
     Dates: start: 20150930
  9. TRASTUZUMAB [Suspect]
     Active Substance: TRASTUZUMAB
     Dosage: 609 MILLIGRAM, 1799.20 MG)
     Dates: start: 20150930
  10. TRASTUZUMAB [Suspect]
     Active Substance: TRASTUZUMAB
     Dosage: 1218 MG (CUMULATIVE DOSE:5575.25 MG)
     Dates: start: 20150930
  11. TRASTUZUMAB [Suspect]
     Active Substance: TRASTUZUMAB
     Dosage: 420 MG, Q3W (CUMULATIVE DOSE: 820.83 MG)
     Route: 042
  12. TRASTUZUMAB [Suspect]
     Active Substance: TRASTUZUMAB
     Dosage: 840 MG, Q3W (CUMULATIVE DOSE: 2481.6667 MG
  13. TRASTUZUMAB [Suspect]
     Active Substance: TRASTUZUMAB
     Dosage: 1218 MILLIGRAM, QW (609 MG, 2/W)
     Dates: start: 20150930
  14. TRASTUZUMAB [Suspect]
     Active Substance: TRASTUZUMAB
     Dosage: 609 MG, 2/W
     Dates: start: 20150930
  15. TRASTUZUMAB [Suspect]
     Active Substance: TRASTUZUMAB
     Dosage: 420 MG, Q3W (CUMULATIVE DOSE: 820.83 MG)
  16. TRASTUZUMAB [Suspect]
     Active Substance: TRASTUZUMAB
     Dosage: 1218 MG, CUMULATIVE DOSE (10795.25 MG)
     Dates: start: 20150930
  17. TRASTUZUMAB [Suspect]
     Active Substance: TRASTUZUMAB
     Dosage: 609 MG, 2/W
  18. TRASTUZUMAB [Suspect]
     Active Substance: TRASTUZUMAB
     Dosage: 1827 MILLIGRAM, QWK
     Dates: start: 20150930
  19. DOCETAXEL [Suspect]
     Active Substance: DOCETAXEL
     Indication: Product used for unknown indication
     Dosage: 110 MG, Q3W (CUMULATIVE DOSE: 324.98)
     Dates: start: 20150930, end: 20151021
  20. HALOPERIDOL [Suspect]
     Active Substance: HALOPERIDOL
     Indication: Product used for unknown indication
     Dosage: 5 MG
     Route: 048
  21. HALOPERIDOL [Suspect]
     Active Substance: HALOPERIDOL
     Dosage: 10 MG, BID
     Route: 048
  22. HALOPERIDOL [Suspect]
     Active Substance: HALOPERIDOL
     Dosage: 10 MG, QD
     Route: 048
  23. HALOPERIDOL [Suspect]
     Active Substance: HALOPERIDOL
     Dosage: 20 MG, QD
     Route: 048
  24. HALOPERIDOL [Suspect]
     Active Substance: HALOPERIDOL
     Dosage: 40 UNK
     Route: 048
  25. HALOPERIDOL [Suspect]
     Active Substance: HALOPERIDOL
     Dosage: 20 UNK
     Route: 048
  26. HALOPERIDOL [Suspect]
     Active Substance: HALOPERIDOL
     Dosage: UNK
  27. HALOPERIDOL [Suspect]
     Active Substance: HALOPERIDOL
     Dosage: 10 MILLIGRAM, ONCE A DAY (5 MILLIGRAM, BID)
  28. HALOPERIDOL [Suspect]
     Active Substance: HALOPERIDOL
     Dosage: 10 MG, QD
  29. HALOPERIDOL [Suspect]
     Active Substance: HALOPERIDOL
     Dosage: 40 MILLIGRAM, ONCE A DAY (20MG BID)
     Route: 048
  30. HALOPERIDOL [Suspect]
     Active Substance: HALOPERIDOL
     Dosage: 20 MILLIGRAM, ONCE A DAY (10 MILLIGRAM, BID)
     Route: 048
  31. HALOPERIDOL [Suspect]
     Active Substance: HALOPERIDOL
     Dosage: 10 MILLIGRAM, ONCE A DAY (5 MILLIGRAM, BID)
  32. HALOPERIDOL [Suspect]
     Active Substance: HALOPERIDOL
     Dosage: UNK
  33. HALOPERIDOL [Suspect]
     Active Substance: HALOPERIDOL
     Dosage: 40 MILLIGRAM, ONCE A DAY (20MG BID)
     Route: 048
  34. HALOPERIDOL [Suspect]
     Active Substance: HALOPERIDOL
     Dosage: 5 MG, BID
  35. HALOPERIDOL [Suspect]
     Active Substance: HALOPERIDOL
     Dosage: 5 MILLIGRAM, ONCE A DAY
  36. HALOPERIDOL [Suspect]
     Active Substance: HALOPERIDOL
     Dosage: 5 MG, BID
  37. HALOPERIDOL [Suspect]
     Active Substance: HALOPERIDOL
     Dosage: 5 MILLIGRAM, ONCE A DAY
     Route: 048
  38. HALOPERIDOL [Suspect]
     Active Substance: HALOPERIDOL
     Dosage: 10 MILLIGRAM, TWO TIMES A DAY (5 MG, BID)
     Route: 048
  39. HALOPERIDOL [Suspect]
     Active Substance: HALOPERIDOL
     Dosage: 20 MILLIGRAM, TWO TIMES A DAY (10 MG, 2X/DAY)
     Route: 048
  40. HALOPERIDOL [Suspect]
     Active Substance: HALOPERIDOL
     Dosage: 5 MILLIGRAM, TWO TIMES A DAY (5 MG, BID)
  41. HALOPERIDOL [Suspect]
     Active Substance: HALOPERIDOL
     Dosage: 20 MG, QD
  42. HALOPERIDOL [Suspect]
     Active Substance: HALOPERIDOL
     Dosage: 20 MILLIGRAM, TWO TIMES A DAY (10 MG, 2X/DAY)
     Route: 048
  43. LORAZEPAM [Suspect]
     Active Substance: LORAZEPAM
     Indication: Schizophrenia
     Dosage: 1 MG
     Route: 048
  44. LORAZEPAM [Suspect]
     Active Substance: LORAZEPAM
     Indication: Schizophrenia
     Dosage: 1 MG
     Route: 048
  45. LORAZEPAM [Suspect]
     Active Substance: LORAZEPAM
     Dosage: 1 MG
     Route: 048
  46. LORAZEPAM [Suspect]
     Active Substance: LORAZEPAM
     Dosage: 1 MG
     Route: 048
  47. LORAZEPAM [Suspect]
     Active Substance: LORAZEPAM
     Dosage: 1 MG
     Route: 048
  48. LORAZEPAM [Suspect]
     Active Substance: LORAZEPAM
     Dosage: 1 MG
     Route: 048
  49. LORAZEPAM [Suspect]
     Active Substance: LORAZEPAM
     Dosage: 1 MG
     Route: 048
  50. LORAZEPAM [Suspect]
     Active Substance: LORAZEPAM
     Dosage: 1 MG
  51. LORAZEPAM [Suspect]
     Active Substance: LORAZEPAM
     Dosage: 1 MG
  52. LORAZEPAM [Suspect]
     Active Substance: LORAZEPAM
     Dosage: 1 MG
  53. LORAZEPAM [Suspect]
     Active Substance: LORAZEPAM
     Dosage: UNK, TABLET (UNCOATED, ORAL)
  54. LORAZEPAM [Suspect]
     Active Substance: LORAZEPAM
     Dosage: 1 MG
     Route: 048
  55. LORAZEPAM [Suspect]
     Active Substance: LORAZEPAM
     Dosage: 1 MG, UNKNOWN
     Route: 048
  56. ARIPIPRAZOLE [Suspect]
     Active Substance: ARIPIPRAZOLE
     Indication: Schizophrenia
     Dosage: 5 MG
     Route: 048
  57. ARIPIPRAZOLE [Suspect]
     Active Substance: ARIPIPRAZOLE
     Dosage: UNK
  58. ARIPIPRAZOLE [Suspect]
     Active Substance: ARIPIPRAZOLE
     Dosage: 5 MG
     Route: 048
  59. ARIPIPRAZOLE [Suspect]
     Active Substance: ARIPIPRAZOLE
     Dosage: 5 MG
     Route: 048
  60. ARIPIPRAZOLE [Suspect]
     Active Substance: ARIPIPRAZOLE
     Dosage: 5 MG
     Route: 048
  61. ARIPIPRAZOLE [Suspect]
     Active Substance: ARIPIPRAZOLE
     Indication: Schizophrenia
     Dosage: 5 MG
  62. ARIPIPRAZOLE [Suspect]
     Active Substance: ARIPIPRAZOLE
     Dosage: 5 MG
     Route: 048
  63. ARIPIPRAZOLE [Suspect]
     Active Substance: ARIPIPRAZOLE
     Dosage: 5 MG
     Route: 048
  64. ARIPIPRAZOLE [Suspect]
     Active Substance: ARIPIPRAZOLE
     Dosage: 5 MG
     Route: 048
  65. ARIPIPRAZOLE [Suspect]
     Active Substance: ARIPIPRAZOLE
     Dosage: 5 MG
     Route: 048
  66. ARIPIPRAZOLE [Suspect]
     Active Substance: ARIPIPRAZOLE
     Dosage: UNK
  67. ARIPIPRAZOLE [Suspect]
     Active Substance: ARIPIPRAZOLE
     Indication: Schizophrenia
     Dosage: 5 MG, UNKNOWN, TABLET (UNCOATED, ORAL)
  68. ARIPIPRAZOLE [Suspect]
     Active Substance: ARIPIPRAZOLE
     Indication: Schizophrenia
     Dosage: 5 MG, TABLET (UNCOATED, ORAL)
  69. ARIPIPRAZOLE [Suspect]
     Active Substance: ARIPIPRAZOLE
     Dosage: 5 MG, TABLET (UNCOATED, ORAL)
  70. ARIPIPRAZOLE [Suspect]
     Active Substance: ARIPIPRAZOLE
     Dosage: 5 MG, TABLET (UNCOATED, ORAL)
  71. ARIPIPRAZOLE [Suspect]
     Active Substance: ARIPIPRAZOLE
     Dosage: 5 MG
  72. ARIPIPRAZOLE [Suspect]
     Active Substance: ARIPIPRAZOLE
     Dosage: 5 MG
  73. ARIPIPRAZOLE [Suspect]
     Active Substance: ARIPIPRAZOLE
     Dosage: 5 MG
  74. ARIPIPRAZOLE [Suspect]
     Active Substance: ARIPIPRAZOLE
     Dosage: 5 MG
  75. ARIPIPRAZOLE [Suspect]
     Active Substance: ARIPIPRAZOLE
     Dosage: UNK
  76. ARIPIPRAZOLE [Suspect]
     Active Substance: ARIPIPRAZOLE
     Dosage: UNK
  77. CHLORPROMAZINE [Suspect]
     Active Substance: CHLORPROMAZINE
     Indication: Schizophrenia
     Dosage: 75 MG, UNKNOWN;
     Route: 048
  78. CHLORPROMAZINE [Suspect]
     Active Substance: CHLORPROMAZINE
     Indication: Schizophrenia
     Dosage: UNK MG
  79. CHLORPROMAZINE [Suspect]
     Active Substance: CHLORPROMAZINE
     Dosage: 75 MG
     Route: 048
  80. CHLORPROMAZINE [Suspect]
     Active Substance: CHLORPROMAZINE
     Dosage: 75 MG
     Route: 048
  81. CHLORPROMAZINE [Suspect]
     Active Substance: CHLORPROMAZINE
     Dosage: 75 MG
     Route: 048
  82. CHLORPROMAZINE [Suspect]
     Active Substance: CHLORPROMAZINE
     Dosage: 75 MG
     Route: 048
  83. CHLORPROMAZINE [Suspect]
     Active Substance: CHLORPROMAZINE
     Dosage: 75 MG
     Route: 048
  84. CHLORPROMAZINE [Suspect]
     Active Substance: CHLORPROMAZINE
     Dosage: 75 MG
     Route: 048
  85. ZUCLOPENTHIXOL HYDROCHLORIDE [Suspect]
     Active Substance: ZUCLOPENTHIXOL HYDROCHLORIDE
     Indication: Product used for unknown indication
     Dosage: UNK
     Route: 065
  86. ZUCLOPENTHIXOL HYDROCHLORIDE [Suspect]
     Active Substance: ZUCLOPENTHIXOL HYDROCHLORIDE
     Dosage: 400 MG, CYCLIC (400 MG, BIWEEKLY)/01-JUN-2004
     Route: 065
     Dates: end: 20041018
  87. ZUCLOPENTHIXOL HYDROCHLORIDE [Suspect]
     Active Substance: ZUCLOPENTHIXOL HYDROCHLORIDE
     Dosage: 400 MG, QW2
     Route: 065
     Dates: start: 20040601, end: 20041018
  88. ZUCLOPENTHIXOL HYDROCHLORIDE [Suspect]
     Active Substance: ZUCLOPENTHIXOL HYDROCHLORIDE
     Dosage: 400 MILLIGRAM, BIWEEKLY/01-JUN-2004
     Route: 065
     Dates: end: 20041018
  89. ZUCLOPENTHIXOL HYDROCHLORIDE [Suspect]
     Active Substance: ZUCLOPENTHIXOL HYDROCHLORIDE
     Dosage: 400 MILLIGRAM, BIWEEKLY/04-FEB-2003
     Route: 065
     Dates: end: 20040217
  90. ZUCLOPENTHIXOL HYDROCHLORIDE [Suspect]
     Active Substance: ZUCLOPENTHIXOL HYDROCHLORIDE
     Dosage: 400 MILLIGRAM, BIWEEKLY/18-OCT-2004
     Route: 065
     Dates: end: 20041018
  91. ZUCLOPENTHIXOL HYDROCHLORIDE [Suspect]
     Active Substance: ZUCLOPENTHIXOL HYDROCHLORIDE
     Dosage: 300 MG, DAILY
     Route: 030
     Dates: start: 20091009
  92. ZUCLOPENTHIXOL HYDROCHLORIDE [Suspect]
     Active Substance: ZUCLOPENTHIXOL HYDROCHLORIDE
     Dosage: 800 MILLIGRAM, QW (400 MG, 2/W)/01-JUN-2004
     Route: 065
     Dates: end: 20041018
  93. ZUCLOPENTHIXOL HYDROCHLORIDE [Suspect]
     Active Substance: ZUCLOPENTHIXOL HYDROCHLORIDE
     Dosage: 400 MG, QW2
     Route: 065
     Dates: start: 20091018
  94. ZUCLOPENTHIXOL HYDROCHLORIDE [Suspect]
     Active Substance: ZUCLOPENTHIXOL HYDROCHLORIDE
     Dosage: 300 MG, WEEKLY/18-OCT-2009
     Route: 030
     Dates: end: 20040217
  95. ZUCLOPENTHIXOL HYDROCHLORIDE [Suspect]
     Active Substance: ZUCLOPENTHIXOL HYDROCHLORIDE
     Dosage: 400 MG, QW2, (CYCLIC, 04 FEB 2004)
     Route: 065
     Dates: end: 20040217
  96. ZUCLOPENTHIXOL HYDROCHLORIDE [Suspect]
     Active Substance: ZUCLOPENTHIXOL HYDROCHLORIDE
     Dosage: 400 MG, QW
     Route: 065
     Dates: start: 20040217, end: 20040601
  97. ZUCLOPENTHIXOL HYDROCHLORIDE [Suspect]
     Active Substance: ZUCLOPENTHIXOL HYDROCHLORIDE
     Dosage: 400 MG, CYCLIC (400 MG, BIWEEKLY)/04-FEB-2003
     Dates: end: 20040217
  98. ZUCLOPENTHIXOL HYDROCHLORIDE [Suspect]
     Active Substance: ZUCLOPENTHIXOL HYDROCHLORIDE
     Dosage: 400 MILLIGRAM, WEEKLY/17-FEB-2004
     Dates: end: 20040601
  99. ZUCLOPENTHIXOL HYDROCHLORIDE [Suspect]
     Active Substance: ZUCLOPENTHIXOL HYDROCHLORIDE
     Dosage: 800 MILLIGRAM, QW (400 MG, 2/W)/04-FEB-2003
     Route: 065
     Dates: end: 20040217
  100. ZUCLOPENTHIXOL HYDROCHLORIDE [Suspect]
     Active Substance: ZUCLOPENTHIXOL HYDROCHLORIDE
     Dosage: 400 MG, QW2
     Route: 065
     Dates: start: 20041018, end: 20041018
  101. ZUCLOPENTHIXOL HYDROCHLORIDE [Suspect]
     Active Substance: ZUCLOPENTHIXOL HYDROCHLORIDE
     Dosage: 400 MILLIGRAM, EVERY WEEK
     Route: 065
  102. ZUCLOPENTHIXOL HYDROCHLORIDE [Suspect]
     Active Substance: ZUCLOPENTHIXOL HYDROCHLORIDE
     Dosage: 400 MG, QW2
     Route: 065
     Dates: start: 20030204, end: 20040217
  103. ZUCLOPENTHIXOL HYDROCHLORIDE [Suspect]
     Active Substance: ZUCLOPENTHIXOL HYDROCHLORIDE
     Dosage: 800 MG, QW, (04 FEB 2003)
     Route: 065
     Dates: end: 20040217
  104. ZUCLOPENTHIXOL HYDROCHLORIDE [Suspect]
     Active Substance: ZUCLOPENTHIXOL HYDROCHLORIDE
     Dosage: UNK
     Route: 065
  105. ZUCLOPENTHIXOL HYDROCHLORIDE [Suspect]
     Active Substance: ZUCLOPENTHIXOL HYDROCHLORIDE
     Dosage: 400 MG, QW2, (CYCLIC, 01 JUN 2004)
     Route: 065
     Dates: end: 20041018
  106. ZUCLOPENTHIXOL HYDROCHLORIDE [Suspect]
     Active Substance: ZUCLOPENTHIXOL HYDROCHLORIDE
     Dosage: 400 MILLIGRAM, BIWEEKLY/18-OCT-2009
     Route: 030
  107. ZUCLOPENTHIXOL HYDROCHLORIDE [Suspect]
     Active Substance: ZUCLOPENTHIXOL HYDROCHLORIDE
     Dosage: 300 MILLIGRAM, QD (300 MILLIGRAM I.M WEEKLY)
     Route: 030
     Dates: start: 20091009
  108. ZUCLOPENTHIXOL HYDROCHLORIDE [Suspect]
     Active Substance: ZUCLOPENTHIXOL HYDROCHLORIDE
     Dosage: 400 MG, CYCLIC (400 MG, BIWEEKLY)
     Route: 065
     Dates: start: 20030204, end: 20040217
  109. ZUCLOPENTHIXOL HYDROCHLORIDE [Suspect]
     Active Substance: ZUCLOPENTHIXOL HYDROCHLORIDE
     Dosage: 400 MG, CYCLICAL (BIWEEKLY)
     Route: 065
     Dates: start: 20040217, end: 20040601
  110. ZUCLOPENTHIXOL HYDROCHLORIDE [Suspect]
     Active Substance: ZUCLOPENTHIXOL HYDROCHLORIDE
     Dosage: 300 MG, WEEKLY (1/W)
     Route: 030
     Dates: start: 20091018
  111. ZUCLOPENTHIXOL HYDROCHLORIDE [Suspect]
     Active Substance: ZUCLOPENTHIXOL HYDROCHLORIDE
     Dosage: 400 MG, WEEKLY (1/W)
     Dates: start: 20040217, end: 20040601
  112. ZUCLOPENTHIXOL HYDROCHLORIDE [Suspect]
     Active Substance: ZUCLOPENTHIXOL HYDROCHLORIDE
     Dosage: 400 MG, OTHER (BIWEEKLY)
     Dates: start: 20041018, end: 20041018
  113. ZUCLOPENTHIXOL HYDROCHLORIDE [Suspect]
     Active Substance: ZUCLOPENTHIXOL HYDROCHLORIDE
     Dosage: 400 MG, CYCLIC (400 MG, BIWEEKLY)
     Dates: start: 20040601, end: 20041018
  114. ZUCLOPENTHIXOL HYDROCHLORIDE [Suspect]
     Active Substance: ZUCLOPENTHIXOL HYDROCHLORIDE
     Indication: Product used for unknown indication
     Dosage: 300 MG, WEEKLY/18-OCT-2009
     Route: 030
     Dates: start: 20091009
  115. ZUCLOPENTHIXOL HYDROCHLORIDE [Suspect]
     Active Substance: ZUCLOPENTHIXOL HYDROCHLORIDE
     Dosage: 400 MG, CYCLIC (400 MG, BIWEEKLY)/04-FEB-2003
     Route: 030
     Dates: start: 20040217
  116. ZUCLOPENTHIXOL HYDROCHLORIDE [Suspect]
     Active Substance: ZUCLOPENTHIXOL HYDROCHLORIDE
     Dosage: 400 MILLIGRAM, BIWEEKLY/18-OCT-2009
     Route: 030
  117. ZUCLOPENTHIXOL HYDROCHLORIDE [Suspect]
     Active Substance: ZUCLOPENTHIXOL HYDROCHLORIDE
     Dosage: 300 MILLIGRAM, QD (300 MILLIGRAM I.M WEEKLY)/09-OCT-2009
     Route: 030
  118. ZUCLOPENTHIXOL HYDROCHLORIDE [Suspect]
     Active Substance: ZUCLOPENTHIXOL HYDROCHLORIDE
     Dosage: UNK
  119. ZUCLOPENTHIXOL HYDROCHLORIDE [Suspect]
     Active Substance: ZUCLOPENTHIXOL HYDROCHLORIDE
     Dosage: 800 MILLIGRAM, QW (400 MG, 2/W)/04-FEB-2003
     Dates: start: 20040217
  120. ZUCLOPENTHIXOL HYDROCHLORIDE [Suspect]
     Active Substance: ZUCLOPENTHIXOL HYDROCHLORIDE
     Dosage: 400 MILLIGRAM, EVERY WEEK
     Route: 030
     Dates: start: 20040217, end: 20040601
  121. ZUCLOPENTHIXOL HYDROCHLORIDE [Suspect]
     Active Substance: ZUCLOPENTHIXOL HYDROCHLORIDE
     Dosage: 400 MILLIGRAM, BIWEEKLY (CYCLE)/04-FEB-2003
     Dates: start: 20040217
  122. ZUCLOPENTHIXOL HYDROCHLORIDE [Suspect]
     Active Substance: ZUCLOPENTHIXOL HYDROCHLORIDE
     Dosage: 400 MILLIGRAM, BIWEEKLY (CYCLE)/01-JUN-2004
     Route: 030
     Dates: start: 20041018, end: 20041018
  123. ZUCLOPENTHIXOL HYDROCHLORIDE [Suspect]
     Active Substance: ZUCLOPENTHIXOL HYDROCHLORIDE
     Dosage: 400 MILLIGRAM, BIWEEKLY, CYCLE/18-OCT-2004
     Dates: start: 20041018
  124. ZUCLOPENTHIXOL HYDROCHLORIDE [Suspect]
     Active Substance: ZUCLOPENTHIXOL HYDROCHLORIDE
     Dosage: 400 MILLIGRAM, WEEKLY/17-FEB-2004
     Dates: start: 20040601
  125. ZUCLOPENTHIXOL HYDROCHLORIDE [Suspect]
     Active Substance: ZUCLOPENTHIXOL HYDROCHLORIDE
     Dosage: 400 MG, CYCLIC (400 MG, BIWEEKLY)/01-JUN-2004
     Dates: start: 20041018
  126. ZUCLOPENTHIXOL HYDROCHLORIDE [Suspect]
     Active Substance: ZUCLOPENTHIXOL HYDROCHLORIDE
     Dosage: 800 MILLIGRAM, QW (400 MG, 2/W)/01-JUN-2004
     Dates: start: 20041018
  127. ZUCLOPENTHIXOL HYDROCHLORIDE [Suspect]
     Active Substance: ZUCLOPENTHIXOL HYDROCHLORIDE
     Dosage: 300 MG, WEEKLY (1/W), QW (300 MILLIGRAM I.M WEEKLY)
     Route: 030
     Dates: start: 20091009
  128. ZUCLOPENTHIXOL HYDROCHLORIDE [Suspect]
     Active Substance: ZUCLOPENTHIXOL HYDROCHLORIDE
     Dosage: 400 MG, CYCLIC (400 MG, BIWEEKLY)
     Dates: start: 20040601, end: 20041018
  129. ZUCLOPENTHIXOL HYDROCHLORIDE [Suspect]
     Active Substance: ZUCLOPENTHIXOL HYDROCHLORIDE
     Dosage: 400 MG, OTHER (BIWEEKLY)
     Dates: start: 20041018, end: 20041018
  130. ZUCLOPENTHIXOL HYDROCHLORIDE [Suspect]
     Active Substance: ZUCLOPENTHIXOL HYDROCHLORIDE
     Dosage: 400 MG, CYCLIC (400 MG, BIWEEKLY)
     Dates: start: 20030204, end: 20040217
  131. ZUCLOPENTHIXOL HYDROCHLORIDE [Suspect]
     Active Substance: ZUCLOPENTHIXOL HYDROCHLORIDE
     Dosage: 400 MG, WEEKLY (1/W)
     Route: 030
     Dates: start: 20040217, end: 20040601
  132. ZUCLOPENTHIXOL HYDROCHLORIDE [Suspect]
     Active Substance: ZUCLOPENTHIXOL HYDROCHLORIDE
     Dosage: 300 MG, QD
     Dates: start: 20091009
  133. ZUCLOPENTHIXOL HYDROCHLORIDE [Suspect]
     Active Substance: ZUCLOPENTHIXOL HYDROCHLORIDE
     Dosage: UNK
  134. ZUCLOPENTHIXOL HYDROCHLORIDE [Suspect]
     Active Substance: ZUCLOPENTHIXOL HYDROCHLORIDE
     Dosage: 300 MG, QD WEEKLY (1/W) (CUMULATIVE DOSE TO FIRST REACTION: 1011312.5 MG)
     Route: 030
     Dates: start: 20091009
  135. ZUCLOPENTHIXOL HYDROCHLORIDE [Suspect]
     Active Substance: ZUCLOPENTHIXOL HYDROCHLORIDE
     Dosage: 400 MG, CYCLIC (400 MG, BIWEEKLY)
     Dates: start: 20030204, end: 20040217
  136. ZUCLOPENTHIXOL HYDROCHLORIDE [Suspect]
     Active Substance: ZUCLOPENTHIXOL HYDROCHLORIDE
     Dosage: 400 MG, WEEKLY (1/W)
     Route: 030
     Dates: start: 20040217, end: 20040601
  137. ZUCLOPENTHIXOL HYDROCHLORIDE [Suspect]
     Active Substance: ZUCLOPENTHIXOL HYDROCHLORIDE
     Dosage: 400 MG, CYCLIC (400 MG, BIWEEKLY); CYCLICAL
     Dates: start: 20030204, end: 20040217
  138. ZUCLOPENTHIXOL HYDROCHLORIDE [Suspect]
     Active Substance: ZUCLOPENTHIXOL HYDROCHLORIDE
     Dosage: 400 MILLIGRAM, QWK
     Route: 030
     Dates: start: 20030204, end: 20040217
  139. ZUCLOPENTHIXOL HYDROCHLORIDE [Suspect]
     Active Substance: ZUCLOPENTHIXOL HYDROCHLORIDE
     Dosage: 800 MILLIGRAM, QWK
     Route: 030
     Dates: start: 20030204, end: 20040217
  140. ZUCLOPENTHIXOL HYDROCHLORIDE [Suspect]
     Active Substance: ZUCLOPENTHIXOL HYDROCHLORIDE
     Dosage: 400 MILLIGRAM
     Route: 030
     Dates: start: 20091018
  141. ZUCLOPENTHIXOL HYDROCHLORIDE [Suspect]
     Active Substance: ZUCLOPENTHIXOL HYDROCHLORIDE
     Dosage: 800 MILLIGRAM, QWK
     Route: 030
     Dates: start: 20040601, end: 20041018
  142. ZUCLOPENTHIXOL HYDROCHLORIDE [Suspect]
     Active Substance: ZUCLOPENTHIXOL HYDROCHLORIDE
     Dosage: 400 MILLIGRAM
     Route: 030
     Dates: start: 20041018, end: 20041018
  143. ZUCLOPENTHIXOL HYDROCHLORIDE [Suspect]
     Active Substance: ZUCLOPENTHIXOL HYDROCHLORIDE
     Dosage: 400 MILLIGRAM
     Route: 030
     Dates: start: 20040601, end: 20041018
  144. ZUCLOPENTHIXOL HYDROCHLORIDE [Suspect]
     Active Substance: ZUCLOPENTHIXOL HYDROCHLORIDE
     Dosage: 800 MILLIGRAM, QWK
     Route: 030
     Dates: start: 20040217
  145. ZUCLOPENTHIXOL HYDROCHLORIDE [Suspect]
     Active Substance: ZUCLOPENTHIXOL HYDROCHLORIDE
     Dosage: 300 MG, WEEKLY (1/W)
     Route: 030
     Dates: start: 20091018
  146. ZUCLOPENTHIXOL HYDROCHLORIDE [Suspect]
     Active Substance: ZUCLOPENTHIXOL HYDROCHLORIDE
     Dosage: 400 MG, CYCLIC (400 MG, BIWEEKLY)
     Route: 030
     Dates: start: 20030204, end: 20040217
  147. ZUCLOPENTHIXOL HYDROCHLORIDE [Suspect]
     Active Substance: ZUCLOPENTHIXOL HYDROCHLORIDE
     Dosage: 400 MG, WEEKLY 1/WEEK
     Route: 030
     Dates: start: 20040217, end: 20040601
  148. ZUCLOPENTHIXOL HYDROCHLORIDE [Suspect]
     Active Substance: ZUCLOPENTHIXOL HYDROCHLORIDE
     Dosage: 300 MG, WEEKLY (1/W)
     Route: 030
     Dates: start: 20091018
  149. ZUCLOPENTHIXOL HYDROCHLORIDE [Suspect]
     Active Substance: ZUCLOPENTHIXOL HYDROCHLORIDE
     Dosage: 300 MILLIGRAM, QWK
     Route: 030
  150. ZUCLOPENTHIXOL HYDROCHLORIDE [Suspect]
     Active Substance: ZUCLOPENTHIXOL HYDROCHLORIDE
     Dosage: 800 MG
     Route: 030
     Dates: start: 20041018, end: 20041018
  151. ZUCLOPENTHIXOL HYDROCHLORIDE [Suspect]
     Active Substance: ZUCLOPENTHIXOL HYDROCHLORIDE
     Dosage: 400 MG CYCLE
     Route: 030
     Dates: start: 20091018
  152. ZUCLOPENTHIXOL HYDROCHLORIDE [Suspect]
     Active Substance: ZUCLOPENTHIXOL HYDROCHLORIDE
     Dosage: 400 MG, OTHER (BIWEEKLY)
     Route: 030
     Dates: start: 20041018, end: 20041018
  153. ZUCLOPENTHIXOL HYDROCHLORIDE [Suspect]
     Active Substance: ZUCLOPENTHIXOL HYDROCHLORIDE
     Dosage: 400 MG, CYCLIC (400 MG, BIWEEKLY)
     Route: 030
     Dates: start: 20030204, end: 20040217
  154. ZUCLOPENTHIXOL HYDROCHLORIDE [Suspect]
     Active Substance: ZUCLOPENTHIXOL HYDROCHLORIDE
     Dosage: 300 MILLIGRAM, QWK
     Route: 030
     Dates: start: 20091018
  155. ZUCLOPENTHIXOL HYDROCHLORIDE [Suspect]
     Active Substance: ZUCLOPENTHIXOL HYDROCHLORIDE
     Dosage: 800 MG
     Route: 030
     Dates: start: 20030204, end: 20040217
  156. ZUCLOPENTHIXOL HYDROCHLORIDE [Suspect]
     Active Substance: ZUCLOPENTHIXOL HYDROCHLORIDE
     Dosage: 400 MILLIGRAM, EVERY WEEK
     Route: 030
  157. ZUCLOPENTHIXOL HYDROCHLORIDE [Suspect]
     Active Substance: ZUCLOPENTHIXOL HYDROCHLORIDE
     Dosage: 800 MG, QW, (04 FEB 2003)
     Route: 030
     Dates: start: 20040217
  158. ZUCLOPENTHIXOL HYDROCHLORIDE [Suspect]
     Active Substance: ZUCLOPENTHIXOL HYDROCHLORIDE
     Dosage: 400 MG, CYCLIC (400 MG, BIWEEKLY)
     Route: 030
     Dates: start: 20040601, end: 20041018
  159. ZUCLOPENTHIXOL HYDROCHLORIDE [Suspect]
     Active Substance: ZUCLOPENTHIXOL HYDROCHLORIDE
     Dosage: 400 MG, OTHER (BIWEEKLY) [CUMULATIVE DOSE TO FIRST REACTION: 4150433.2 MG]
     Route: 030
     Dates: start: 20041018, end: 20041018
  160. ZUCLOPENTHIXOL HYDROCHLORIDE [Suspect]
     Active Substance: ZUCLOPENTHIXOL HYDROCHLORIDE
     Indication: Product used for unknown indication
     Dosage: 400 MILLIGRAM, QWK
     Route: 030
  161. ZUCLOPENTHIXOL HYDROCHLORIDE [Suspect]
     Active Substance: ZUCLOPENTHIXOL HYDROCHLORIDE
     Dosage: 400 MILLIGRAM
     Route: 030
     Dates: start: 20040217, end: 20040601
  162. ZUCLOPENTHIXOL HYDROCHLORIDE [Suspect]
     Active Substance: ZUCLOPENTHIXOL HYDROCHLORIDE
     Dosage: 400 MILLIGRAM
     Route: 030
     Dates: start: 20041018
  163. ZUCLOPENTHIXOL HYDROCHLORIDE [Suspect]
     Active Substance: ZUCLOPENTHIXOL HYDROCHLORIDE
     Dosage: 400 MILLIGRAM
     Route: 030
     Dates: start: 20040901
  164. ZUCLOPENTHIXOL HYDROCHLORIDE [Suspect]
     Active Substance: ZUCLOPENTHIXOL HYDROCHLORIDE
     Dosage: 800 MILLIGRAM, QWK,608804.75 MG
     Route: 030
     Dates: start: 20040601, end: 20041018
  165. ZUCLOPENTHIXOL HYDROCHLORIDE [Suspect]
     Active Substance: ZUCLOPENTHIXOL HYDROCHLORIDE
     Dosage: 300 MILLIGRAM, QD, 1011312.5 MG
     Route: 030
     Dates: start: 20091009
  166. ZUCLOPENTHIXOL HYDROCHLORIDE [Suspect]
     Active Substance: ZUCLOPENTHIXOL HYDROCHLORIDE
     Dosage: 300 MILLIGRAM, QWK, 144473.22 MG
     Route: 030
     Dates: start: 20091009
  167. ZUCLOPENTHIXOL HYDROCHLORIDE [Suspect]
     Active Substance: ZUCLOPENTHIXOL HYDROCHLORIDE
     Dosage: 400 MILLIGRAM
     Route: 030
     Dates: start: 20091018
  168. ZUCLOPENTHIXOL HYDROCHLORIDE [Suspect]
     Active Substance: ZUCLOPENTHIXOL HYDROCHLORIDE
     Dosage: 400 MILLIGRAM
     Route: 030
     Dates: end: 20040601
  169. ZUCLOPENTHIXOL HYDROCHLORIDE [Suspect]
     Active Substance: ZUCLOPENTHIXOL HYDROCHLORIDE
     Dosage: 300 MILLIGRAM, QWK, 144087.5 MG
     Route: 030
     Dates: end: 20091018
  170. ZUCLOPENTHIXOL HYDROCHLORIDE [Suspect]
     Active Substance: ZUCLOPENTHIXOL HYDROCHLORIDE
     Dosage: 800 MILLIGRAM, QWK, 664000.0 MG
     Route: 030
     Dates: start: 20030204, end: 20040217
  171. ZUCLOPENTHIXOL HYDROCHLORIDE [Suspect]
     Active Substance: ZUCLOPENTHIXOL HYDROCHLORIDE
     Dosage: 400 MILLIGRAM, QWK, 310400.0 MG
     Route: 030
     Dates: start: 20040217, end: 20040601
  172. ZUCLOPENTHIXOL HYDROCHLORIDE [Suspect]
     Active Substance: ZUCLOPENTHIXOL HYDROCHLORIDE
     Dosage: 800 MILLIGRAM, QWK
     Route: 030
     Dates: start: 20041018, end: 20041018
  173. ZUCLOPENTHIXOL HYDROCHLORIDE [Suspect]
     Active Substance: ZUCLOPENTHIXOL HYDROCHLORIDE
     Dosage: 400 MILLIGRAM
     Route: 030
     Dates: start: 20041018, end: 20041018
  174. ZUCLOPENTHIXOL HYDROCHLORIDE [Suspect]
     Active Substance: ZUCLOPENTHIXOL HYDROCHLORIDE
     Dosage: 400 MILLIGRAM, QWK, 332000.0 MG
     Route: 030
     Dates: start: 20030204, end: 20040217
  175. ZUCLOPENTHIXOL HYDROCHLORIDE [Suspect]
     Active Substance: ZUCLOPENTHIXOL HYDROCHLORIDE
     Dosage: 400 MILLIGRAM
     Route: 030
     Dates: start: 20041018
  176. ZUCLOPENTHIXOL HYDROCHLORIDE [Suspect]
     Active Substance: ZUCLOPENTHIXOL HYDROCHLORIDE
     Dosage: 800 MILLIGRAM, QWK
     Route: 030
     Dates: end: 20040217
  177. ZUCLOPENTHIXOL HYDROCHLORIDE [Suspect]
     Active Substance: ZUCLOPENTHIXOL HYDROCHLORIDE
     Dosage: 800 MILLIGRAM, (400 MG, OTHER (BIWEEKLY))
     Route: 030
     Dates: start: 20041018, end: 20041018
  178. ZUCLOPENTHIXOL HYDROCHLORIDE [Suspect]
     Active Substance: ZUCLOPENTHIXOL HYDROCHLORIDE
     Dosage: 400 MILLIGRAM, EVERY WEEK
     Route: 030
  179. ZUCLOPENTHIXOL HYDROCHLORIDE [Suspect]
     Active Substance: ZUCLOPENTHIXOL HYDROCHLORIDE
     Dosage: 400 MG, CYCLIC (400 MG, BIWEEKLY)
     Dates: start: 20030204, end: 20040217
  180. CLOZARIL [Suspect]
     Active Substance: CLOZAPINE
     Indication: Schizophrenia
     Dosage: 245 MILLIGRAM
     Route: 048
     Dates: start: 20191207
  181. CLOZARIL [Suspect]
     Active Substance: CLOZAPINE
     Dosage: 200 MILLIGRAM, BID/09-DEC-2019
     Route: 048
     Dates: end: 20191223
  182. CLOZARIL [Suspect]
     Active Substance: CLOZAPINE
     Dosage: 300 MILLIGRAM, PM
     Route: 065
  183. CLOZARIL [Suspect]
     Active Substance: CLOZAPINE
     Dosage: 245 MG, UNKNOWN
     Route: 048
     Dates: start: 20200521
  184. CLOZARIL [Suspect]
     Active Substance: CLOZAPINE
     Dosage: START DATE:09-DEC-2019245 MILLIGRAM/09-DEC-2019800 MILLIGRAM, QD
     Route: 048
     Dates: end: 20191223
  185. CLOZARIL [Suspect]
     Active Substance: CLOZAPINE
     Dosage: UNK
     Route: 065
     Dates: start: 20191223, end: 20191223
  186. CLOZARIL [Suspect]
     Active Substance: CLOZAPINE
     Dosage: 400 MILLIGRAM, QD (400 MG, DAILY)/07-DEC-2020
     Route: 048
  187. CLOZARIL [Suspect]
     Active Substance: CLOZAPINE
     Dosage: 400 MG, QD
     Route: 048
     Dates: start: 20191209, end: 20191223
  188. CLOZARIL [Suspect]
     Active Substance: CLOZAPINE
     Dosage: 6000 MILLIGRAM
     Route: 048
     Dates: start: 20200521
  189. CLOZARIL [Suspect]
     Active Substance: CLOZAPINE
     Dosage: UNK
     Route: 048
     Dates: start: 20100823
  190. CLOZARIL [Suspect]
     Active Substance: CLOZAPINE
     Dosage: 50 MILLIGRAM, QD (50 MILLIGRAM MIDDDAY )
     Route: 065
  191. CLOZARIL [Suspect]
     Active Substance: CLOZAPINE
     Dosage: UNK UNK, AM/2011
     Route: 065
  192. CLOZARIL [Suspect]
     Active Substance: CLOZAPINE
     Dosage: 1 DOSAGE FORM, (AT AM)
     Route: 065
  193. CLOZARIL [Suspect]
     Active Substance: CLOZAPINE
     Dosage: 400 MILLIGRAM, QD (200 MILLIGRAM, BID)
     Route: 048
  194. CLOZARIL [Suspect]
     Active Substance: CLOZAPINE
     Dosage: 400 MILLIGRAM, QD (400 MG, DAILY)/23-DEC-2019
     Route: 048
     Dates: end: 20191223
  195. CLOZARIL [Suspect]
     Active Substance: CLOZAPINE
     Dosage: 275 MILLIGRAM, QD
     Route: 048
     Dates: end: 2020
  196. CLOZARIL [Suspect]
     Active Substance: CLOZAPINE
     Dosage: 200 MILLIGRAM, BID (200 MILLIGRAM, TWO TIMES A DAY)
     Route: 048
  197. CLOZARIL [Suspect]
     Active Substance: CLOZAPINE
     Dosage: 100 MILLIGRAM, QD, AM
     Route: 065
  198. CLOZARIL [Suspect]
     Active Substance: CLOZAPINE
     Dosage: 300 MG, QD, (PM)
     Route: 065
  199. CLOZARIL [Suspect]
     Active Substance: CLOZAPINE
     Dosage: 245 MG, QD, (AM)
     Route: 065
     Dates: start: 2011
  200. CLOZARIL [Suspect]
     Active Substance: CLOZAPINE
     Dosage: 6000 MG
     Route: 048
     Dates: start: 20191209, end: 20191223
  201. CLOZARIL [Suspect]
     Active Substance: CLOZAPINE
     Dosage: 100 MG, QD, (AM)
     Route: 065
  202. CLOZARIL [Suspect]
     Active Substance: CLOZAPINE
     Dosage: 50 MG, QD, (MIDDAY)
     Route: 065
  203. CLOZARIL [Suspect]
     Active Substance: CLOZAPINE
     Dosage: 6000 MG
     Route: 048
     Dates: start: 20100823, end: 20100823
  204. CLOZARIL [Suspect]
     Active Substance: CLOZAPINE
     Dosage: UNK, 23-AUG-2010
     Route: 048
  205. CLOZARIL [Suspect]
     Active Substance: CLOZAPINE
     Dosage: 21-MAY-2020
     Route: 048
  206. CLOZARIL [Suspect]
     Active Substance: CLOZAPINE
     Dosage: 21-MAY-2020
     Route: 048
     Dates: end: 2021
  207. CLOZARIL [Suspect]
     Active Substance: CLOZAPINE
     Dosage: 400 MG, UNKNOWN
     Dates: start: 20200521, end: 2020
  208. CLOZARIL [Suspect]
     Active Substance: CLOZAPINE
     Dosage: 50 MILLIGRAM, QD (50 MG, DAILY)
     Route: 048
     Dates: start: 20191209, end: 20191223
  209. CLOZARIL [Suspect]
     Active Substance: CLOZAPINE
     Dosage: 400 MILLIGRAM, QD (400 MG, DAILY)/09-DEC-2019
     Route: 065
     Dates: end: 20191223
  210. CLOZARIL [Suspect]
     Active Substance: CLOZAPINE
     Dosage: 400 MILLIGRAM, QD (200 MILLIGRAM, BID OFF LABEL USE)
     Route: 065
  211. CLOZARIL [Suspect]
     Active Substance: CLOZAPINE
     Dosage: 100 MG, UNKNOWN
     Dates: end: 2020
  212. CLOZARIL [Suspect]
     Active Substance: CLOZAPINE
     Dosage: 400 MILLIGRAM, QD (400 MG, DAILY)/23-AUG-2010
     Route: 048
  213. CLOZARIL [Suspect]
     Active Substance: CLOZAPINE
     Dosage: 6000 MILLIGRAM/ START DATE:23-AUG-2010
     Route: 048
     Dates: end: 20100823
  214. CLOZARIL [Suspect]
     Active Substance: CLOZAPINE
     Dosage: UNK, 21-MAY-2020
     Route: 048
     Dates: end: 2020
  215. CLOZARIL [Suspect]
     Active Substance: CLOZAPINE
     Dosage: 245 MILLIGRAM/21-MAY-2020
     Route: 048
  216. CLOZARIL [Suspect]
     Active Substance: CLOZAPINE
     Dosage: 275 MG, QD
     Route: 048
     Dates: end: 2020
  217. CLOZARIL [Suspect]
     Active Substance: CLOZAPINE
     Dosage: 275 MILLIGRAM, QD (275 MILLIGRAM, PM)
     Route: 065
  218. CLOZARIL [Suspect]
     Active Substance: CLOZAPINE
     Dosage: 245 MILLIGRAM/09-DEC-2019
     Route: 048
     Dates: end: 20191223
  219. CLOZARIL [Suspect]
     Active Substance: CLOZAPINE
     Dosage: 800 MG, QD
     Route: 065
  220. CLOZARIL [Suspect]
     Active Substance: CLOZAPINE
     Dosage: 245 MILLIGRAM, QD, 1 ONCE A DAY (AM)/2011
     Route: 065
  221. CLOZARIL [Suspect]
     Active Substance: CLOZAPINE
     Dosage: UNK
     Route: 048
     Dates: start: 20100823, end: 20100823
  222. CLOZARIL [Suspect]
     Active Substance: CLOZAPINE
     Dosage: UNK, 23-DEC-2019
     Route: 048
     Dates: end: 20191223
  223. CLOZARIL [Suspect]
     Active Substance: CLOZAPINE
     Dosage: 1 DOSAGE FORM, AM/ START DATE: 2011
     Route: 048
  224. CLOZARIL [Suspect]
     Active Substance: CLOZAPINE
     Dosage: UNK, 23-DEC-2019
     Route: 048
     Dates: end: 20191223
  225. CLOZARIL [Suspect]
     Active Substance: CLOZAPINE
     Dosage: 200 MILLIGRAM, BID
     Route: 048
     Dates: start: 20191209, end: 20191223
  226. CLOZARIL [Suspect]
     Active Substance: CLOZAPINE
     Dosage: START DATE: 07-DEC-2020
     Route: 048
  227. CLOZARIL [Suspect]
     Active Substance: CLOZAPINE
     Dosage: 400 MILLIGRAM, QD (400 MG, DAILY)
     Route: 065
     Dates: start: 20191223, end: 20191223
  228. CLOZARIL [Suspect]
     Active Substance: CLOZAPINE
     Dosage: 245 MILLIGRAM, QD (245 MILLIGRAM, DAILY)
     Route: 048
     Dates: start: 20191209, end: 20191223
  229. CLOZARIL [Suspect]
     Active Substance: CLOZAPINE
     Dosage: 800 MILLIGRAM, QD
     Route: 048
     Dates: start: 20201207
  230. CLOZARIL [Suspect]
     Active Substance: CLOZAPINE
     Indication: Schizophrenia
     Dosage: 1 DOSAGE FORM, DAILY; STOP DATE: ??-???-2021 00:00
  231. CLOZARIL [Suspect]
     Active Substance: CLOZAPINE
     Dosage: 6000 MG, UNKNOWN
  232. CLOZARIL [Suspect]
     Active Substance: CLOZAPINE
     Dosage: 50 MG, DAILY (MIDDAY)
  233. CLOZARIL [Suspect]
     Active Substance: CLOZAPINE
     Dosage: 800 MG, DAILY
     Route: 048
     Dates: start: 20201207
  234. CLOZARIL [Suspect]
     Active Substance: CLOZAPINE
     Dosage: 245 MG, DAILY
     Dates: start: 20191209, end: 20191223
  235. CLOZARIL [Suspect]
     Active Substance: CLOZAPINE
     Dosage: 300 MG, DAILY (PM)
     Route: 048
     Dates: start: 20100823
  236. CLOZARIL [Suspect]
     Active Substance: CLOZAPINE
     Dosage: 200 MG, BID (OFF-LABEL USE)
  237. CLOZARIL [Suspect]
     Active Substance: CLOZAPINE
     Dosage: 275 MG, DAILY (PM)
  238. CLOZARIL [Suspect]
     Active Substance: CLOZAPINE
     Dosage: 400 MG, UNKNOWN
     Route: 048
     Dates: start: 20191223, end: 20191223
  239. CLOZARIL [Suspect]
     Active Substance: CLOZAPINE
     Dosage: 400 MG, DAILY
     Dates: start: 20191209, end: 20191223
  240. CLOZARIL [Suspect]
     Active Substance: CLOZAPINE
     Dosage: UNK
     Dates: start: 20201207
  241. CLOZARIL [Suspect]
     Active Substance: CLOZAPINE
     Dosage: STOP DATE: 2021
     Dates: start: 20200521
  242. CLOZARIL [Suspect]
     Active Substance: CLOZAPINE
     Dosage: 50 MG, QD, (MIDDAY)
  243. CLOZARIL [Suspect]
     Active Substance: CLOZAPINE
     Dosage: 800 MG, QD
  244. CLOZARIL [Suspect]
     Active Substance: CLOZAPINE
     Dosage: 1 DOSAGE FORM, DAILY
     Dates: start: 2011
  245. CLOZARIL [Suspect]
     Active Substance: CLOZAPINE
     Dosage: 245 MG, QD, (AM)
     Dates: start: 2011
  246. CLOZARIL [Suspect]
     Active Substance: CLOZAPINE
     Dosage: 100 MILLIGRAM, QD, AM
  247. CLOZARIL [Suspect]
     Active Substance: CLOZAPINE
     Dosage: 300 MG, QD, (PM)
  248. CLOZARIL [Suspect]
     Active Substance: CLOZAPINE
     Dosage: 400 MILLIGRAM, QD (400 MG, DAILY)/09-DEC-2019
     Dates: end: 20191223
  249. CLOZARIL [Suspect]
     Active Substance: CLOZAPINE
     Dosage: 400 MILLIGRAM, QD (400 MG, DAILY)/07-DEC-2020
  250. CLOZARIL [Suspect]
     Active Substance: CLOZAPINE
     Dosage: UNK, 23-DEC-2019
     Dates: end: 20191223
  251. CLOZARIL [Suspect]
     Active Substance: CLOZAPINE
     Dosage: 245 MILLIGRAM, QD, 1 ONCE A DAY (AM)/2011
  252. CLOZARIL [Suspect]
     Active Substance: CLOZAPINE
     Dosage: UNK, 23-DEC-2019
  253. CLOZARIL [Suspect]
     Active Substance: CLOZAPINE
     Dosage: 6000 MILLIGRAM
     Route: 048
     Dates: start: 20200521
  254. CLOZARIL [Suspect]
     Active Substance: CLOZAPINE
     Dosage: 50 MILLIGRAM, QD (50 MG, DAILY)
     Dates: start: 20191209, end: 20191223
  255. CLOZARIL [Suspect]
     Active Substance: CLOZAPINE
     Dosage: 400 MILLIGRAM, QD (200 MILLIGRAM, BID OFF LABEL USE)
  256. CLOZARIL [Suspect]
     Active Substance: CLOZAPINE
     Dosage: 200 MILLIGRAM, BID/09-DEC-2019
     Dates: end: 20191223
  257. CLOZARIL [Suspect]
     Active Substance: CLOZAPINE
     Dosage: UNK UNK, AM/2011
  258. CLOZARIL [Suspect]
     Active Substance: CLOZAPINE
     Dosage: UNK
     Dates: start: 20191223, end: 20191223
  259. CLOZARIL [Suspect]
     Active Substance: CLOZAPINE
     Dosage: 6000 MILLIGRAM
     Dates: start: 20191209, end: 20191223
  260. CLOZARIL [Suspect]
     Active Substance: CLOZAPINE
     Dosage: 50 MILLIGRAM, QD (50 MILLIGRAM MIDDAY)
  261. CLOZARIL [Suspect]
     Active Substance: CLOZAPINE
     Dosage: 400 MILLIGRAM, QD (400 MG, DAILY)/23-AUG-2010
  262. CLOZARIL [Suspect]
     Active Substance: CLOZAPINE
     Dosage: 100 MG, UNKNOWN
  263. CLOZARIL [Suspect]
     Active Substance: CLOZAPINE
     Dosage: UNK
     Dates: start: 20100823
  264. CLOZARIL [Suspect]
     Active Substance: CLOZAPINE
     Dosage: 300 MILLIGRAM, PM
  265. CLOZARIL [Suspect]
     Active Substance: CLOZAPINE
     Dosage: 6000 MILLIGRAM/ START DATE:23-AUG-2010
     Dates: end: 20100823
  266. CLOZARIL [Suspect]
     Active Substance: CLOZAPINE
     Dosage: 400 MILLIGRAM, QD (400 MG, DAILY)/23-DEC-2019
     Dates: end: 20191223
  267. CLOZARIL [Suspect]
     Active Substance: CLOZAPINE
     Dosage: 275 MILLIGRAM, QD
     Dates: end: 2020
  268. CLOZARIL [Suspect]
     Active Substance: CLOZAPINE
     Dosage: 275 MILLIGRAM, QD (275 MILLIGRAM, PM)
  269. CLOZARIL [Suspect]
     Active Substance: CLOZAPINE
     Dosage: UNK, 23-AUG-2010
  270. CLOZARIL [Suspect]
     Active Substance: CLOZAPINE
     Dosage: START DATE:09-DEC-2019245 MILLIGRAM/09-DEC-2019800 MILLIGRAM, QD
     Dates: end: 20191223
  271. CLOZARIL [Suspect]
     Active Substance: CLOZAPINE
     Dosage: 400 MG, UNKNOWN
     Dates: start: 20200521
  272. CLOZARIL [Suspect]
     Active Substance: CLOZAPINE
     Dosage: 400 MG, QD
     Dates: start: 20191209, end: 20191223
  273. CLOZARIL [Suspect]
     Active Substance: CLOZAPINE
     Dosage: 200 MILLIGRAM, BID (200 MILLIGRAM, TWO TIMES A DAY)
  274. CLOZARIL [Suspect]
     Active Substance: CLOZAPINE
     Dosage: 400 MILLIGRAM, QD (200 MILLIGRAM, BID)
  275. CLOZARIL [Suspect]
     Active Substance: CLOZAPINE
     Dosage: 21-MAY-2020
  276. CLOZARIL [Suspect]
     Active Substance: CLOZAPINE
     Dosage: 1 DOSAGE FORM, AM/ START DATE: 2011
  277. CLOZARIL [Suspect]
     Active Substance: CLOZAPINE
     Dosage: 245 MILLIGRAM/09-DEC-2019
     Dates: end: 20191223
  278. CLOZARIL [Suspect]
     Active Substance: CLOZAPINE
     Dosage: 100 MG, QD, (AM)
  279. CLOZARIL [Suspect]
     Active Substance: CLOZAPINE
     Dosage: 245 MG, UNKNOWN
     Dates: start: 20200521, end: 20201223
  280. CLOZARIL [Suspect]
     Active Substance: CLOZAPINE
     Indication: Product used for unknown indication
     Dosage: 6000 MILLIGRAM
     Route: 048
     Dates: start: 20200521
  281. CLOZARIL [Suspect]
     Active Substance: CLOZAPINE
     Dosage: 245 MILLIGRAM, QD (CUMULATIVE DOSE:366765.0 MG)
     Route: 048
     Dates: start: 20191207
  282. CLOZARIL [Suspect]
     Active Substance: CLOZAPINE
     Dosage: 1 DOSAGE FORM, QD
     Route: 048
     Dates: start: 2011
  283. CLOZARIL [Suspect]
     Active Substance: CLOZAPINE
     Dosage: 5 MILLIGRAM
     Route: 048
  284. CLOZARIL [Suspect]
     Active Substance: CLOZAPINE
     Dosage: 275 MG, QD
     Route: 048
     Dates: start: 20200521
  285. CLOZARIL [Suspect]
     Active Substance: CLOZAPINE
     Dosage: 800 MG, QD
     Route: 048
  286. CLOZARIL [Suspect]
     Active Substance: CLOZAPINE
     Dosage: 200 MG, BID
     Route: 048
     Dates: start: 20191209, end: 20191223
  287. CLOZARIL [Suspect]
     Active Substance: CLOZAPINE
     Dosage: 800 MILLIGRAM, QD
     Route: 048
     Dates: start: 20201207
  288. CLOZARIL [Suspect]
     Active Substance: CLOZAPINE
     Dosage: 200 MILLIGRAM, TWO TIMES A DAY
     Route: 048
  289. CLOZARIL [Suspect]
     Active Substance: CLOZAPINE
     Dosage: UNK
     Route: 048
     Dates: start: 20191209, end: 20191223
  290. CLOZARIL [Suspect]
     Active Substance: CLOZAPINE
     Dosage: 200 MILLIGRAM, ONCE A DAY, OFF LABEL USE
     Route: 048
     Dates: start: 20100823
  291. CLOZARIL [Suspect]
     Active Substance: CLOZAPINE
     Dosage: 245 MG, QD (AM)
     Route: 048
     Dates: start: 20191223, end: 20191223
  292. CLOZARIL [Suspect]
     Active Substance: CLOZAPINE
     Dosage: 100 MG, QD; 100 MILLIGRAM, ONCE A DAY AM
     Route: 048
  293. CLOZARIL [Suspect]
     Active Substance: CLOZAPINE
     Dosage: 400 MG, BID
     Route: 048
  294. CLOZARIL [Suspect]
     Active Substance: CLOZAPINE
     Dosage: 6000 MILLIGRAM
     Route: 048
     Dates: start: 20100823, end: 20100823
  295. CLOZARIL [Suspect]
     Active Substance: CLOZAPINE
     Dosage: 245 MG, QD
     Route: 048
     Dates: start: 20200521, end: 2020
  296. CLOZARIL [Suspect]
     Active Substance: CLOZAPINE
     Dosage: STOP DATE: ??-???-2021 00:00
     Route: 048
     Dates: start: 20200521
  297. CLOZARIL [Suspect]
     Active Substance: CLOZAPINE
     Dosage: 400 MG
     Route: 048
     Dates: start: 20200823
  298. CLOZARIL [Suspect]
     Active Substance: CLOZAPINE
     Dosage: 6000 MILLIGRAM; STOP DATE: ??-???-2020 00:00
     Route: 048
     Dates: start: 20200521
  299. CLOZARIL [Suspect]
     Active Substance: CLOZAPINE
     Dosage: 275 MG, QD, PM
     Route: 048
  300. CLOZARIL [Suspect]
     Active Substance: CLOZAPINE
     Dosage: 50 MG, QD, MIDDAY
     Route: 048
     Dates: start: 20191209, end: 20191223
  301. CLOZARIL [Suspect]
     Active Substance: CLOZAPINE
     Dosage: 400 MG, QD
     Route: 048
     Dates: start: 20191209, end: 20191223
  302. CLOZARIL [Suspect]
     Active Substance: CLOZAPINE
     Dosage: 245 MG
     Route: 048
     Dates: start: 20191209, end: 20191223
  303. CLOZARIL [Suspect]
     Active Substance: CLOZAPINE
     Dosage: 245 MILLIGRAM, ONCE A DAY
     Route: 048
     Dates: start: 20191209, end: 20191223
  304. CLOZARIL [Suspect]
     Active Substance: CLOZAPINE
     Dosage: 50 MG, QD, MIDDAY
     Route: 048
     Dates: start: 20191209, end: 20191223
  305. CLOZARIL [Suspect]
     Active Substance: CLOZAPINE
     Dosage: 400 MG, QD OFF LABEL USE
     Route: 048
  306. CLOZARIL [Suspect]
     Active Substance: CLOZAPINE
     Dosage: 6000 MG
     Route: 048
     Dates: start: 20201207
  307. CLOZARIL [Suspect]
     Active Substance: CLOZAPINE
     Dosage: 1 DOSAGE FORM, EACH MORNING
     Route: 048
  308. CLOZARIL [Suspect]
     Active Substance: CLOZAPINE
     Dosage: 1 DF, QD, 1 DOSAGE FORM, ONCE A DAY (1 DF, EACH MORNING)
     Dates: start: 2011
  309. CLOZARIL [Suspect]
     Active Substance: CLOZAPINE
     Dosage: 245 MILLIGRAM
     Route: 048
     Dates: start: 20200521, end: 2021
  310. CLOZARIL [Suspect]
     Active Substance: CLOZAPINE
     Dosage: UNK
     Route: 048
     Dates: start: 20191209, end: 20191223
  311. CLOZARIL [Suspect]
     Active Substance: CLOZAPINE
     Dosage: 6000 MG
     Route: 048
     Dates: start: 20191223, end: 20191223
  312. CLOZARIL [Suspect]
     Active Substance: CLOZAPINE
     Dosage: 400 MG, QD
     Route: 048
  313. CLOZARIL [Suspect]
     Active Substance: CLOZAPINE
     Dosage: 6000 MG
     Route: 048
     Dates: start: 20201207
  314. CLOZARIL [Suspect]
     Active Substance: CLOZAPINE
     Dosage: UNK UNK, UNKNOWN
     Route: 048
     Dates: start: 20200823, end: 20200823
  315. CLOZARIL [Suspect]
     Active Substance: CLOZAPINE
     Dosage: 6000 MILLIGRAM
     Route: 048
     Dates: start: 20200521
  316. CLOZARIL [Suspect]
     Active Substance: CLOZAPINE
     Dosage: 400 MG, BID
  317. CLOZARIL [Suspect]
     Active Substance: CLOZAPINE
     Dosage: 200 MILLIGRAM, TWO TIMES A DAY
     Route: 048
  318. CLOZARIL [Suspect]
     Active Substance: CLOZAPINE
     Dosage: 600 MG, QD AM (1 ONCE A DAY)
     Route: 048
     Dates: start: 2011
  319. CLOZARIL [Suspect]
     Active Substance: CLOZAPINE
     Dosage: 50 MG, QD(1X/DAY (MIDDAY))
  320. CLOZARIL [Suspect]
     Active Substance: CLOZAPINE
     Dosage: UNK
     Route: 048
     Dates: start: 20191207, end: 20191223
  321. CLOZARIL [Suspect]
     Active Substance: CLOZAPINE
     Dosage: 245 MILLIGRAM
     Dates: start: 20100823
  322. CLOZARIL [Suspect]
     Active Substance: CLOZAPINE
     Dosage: 275 MILLIGRAM, ONCE A DAY PM
     Route: 048
  323. CLOZARIL [Suspect]
     Active Substance: CLOZAPINE
     Dosage: 600 MILLIGRAM, QD
     Dates: start: 20191207, end: 20191223
  324. CLOZARIL [Suspect]
     Active Substance: CLOZAPINE
     Dosage: 400 MG, QD
  325. CLOZARIL [Suspect]
     Active Substance: CLOZAPINE
     Dosage: 800 MG, QD
  326. CLOZARIL [Suspect]
     Active Substance: CLOZAPINE
     Dosage: 245 MG, UNKNOWN
     Dates: start: 20191223, end: 20191223
  327. CLOZARIL [Suspect]
     Active Substance: CLOZAPINE
     Dosage: 200 MG, BID OFF LABEL USE
  328. CLOZARIL [Suspect]
     Active Substance: CLOZAPINE
     Dosage: 6000 MG
     Route: 048
     Dates: start: 20201209, end: 20201223
  329. CLOZARIL [Suspect]
     Active Substance: CLOZAPINE
     Dosage: UNK
     Route: 048
     Dates: start: 20100823
  330. CLOZARIL [Suspect]
     Active Substance: CLOZAPINE
     Indication: Product used for unknown indication
     Dosage: 100 MG 100 MG, 1X/DAY (AM)
  331. CLOZARIL [Suspect]
     Active Substance: CLOZAPINE
     Dosage: 275 275 MG, DAILY
     Dates: start: 20200521
  332. CLOZARIL [Suspect]
     Active Substance: CLOZAPINE
     Dosage: 100 MG, EACH MORNING
  333. CLOZARIL [Suspect]
     Active Substance: CLOZAPINE
     Dosage: 245 MG
     Dates: start: 20191207
  334. CLOZARIL [Suspect]
     Active Substance: CLOZAPINE
     Dosage: UNK, UNKNOWN
     Dates: start: 20191223, end: 20191223
  335. CLOZARIL [Suspect]
     Active Substance: CLOZAPINE
     Dosage: 245 MG, UNKNOWN
     Dates: start: 20191209, end: 20191223
  336. CLOZARIL [Suspect]
     Active Substance: CLOZAPINE
     Dosage: 300 MG, DAILY
  337. CLOZARIL [Suspect]
     Active Substance: CLOZAPINE
     Dosage: 245 MG, UNKNOWN
  338. CLOZARIL [Suspect]
     Active Substance: CLOZAPINE
     Dosage: 400 MG, 200 MILLIGRAM, BID
     Dates: start: 20191209, end: 20191223
  339. CLOZARIL [Suspect]
     Active Substance: CLOZAPINE
     Dosage: 400 MG, QD
     Route: 048
     Dates: start: 20201207
  340. CLOZARIL [Suspect]
     Active Substance: CLOZAPINE
     Dosage: 400 MG, BID
  341. CLOZARIL [Suspect]
     Active Substance: CLOZAPINE
     Dosage: 300 MG, QD, PM
  342. CLOZARIL [Suspect]
     Active Substance: CLOZAPINE
     Dosage: 50 MG, 1X/DAY (MIDDAY)
  343. CLOZARIL [Suspect]
     Active Substance: CLOZAPINE
     Dosage: 400 MG, 200 MG, BID
  344. CLOZARIL [Suspect]
     Active Substance: CLOZAPINE
     Dosage: UNK UNK, UNKNOWN
     Dates: start: 20201207
  345. CLOZARIL [Suspect]
     Active Substance: CLOZAPINE
     Dosage: 245 MILLIGRAM, QD, 1 ONCE A DAY (AM)
  346. CLOZARIL [Suspect]
     Active Substance: CLOZAPINE
     Dosage: 100 MG, QD
  347. CLOZARIL [Suspect]
     Active Substance: CLOZAPINE
     Dosage: 50 MG, QD, MIDDAY
  348. CLOZARIL [Suspect]
     Active Substance: CLOZAPINE
     Dosage: 300 MILLIGRAM, PM
  349. CLOZARIL [Suspect]
     Active Substance: CLOZAPINE
     Dosage: 300 MILLIGRAM, PM
  350. CLOZARIL [Suspect]
     Active Substance: CLOZAPINE
     Dosage: UNK, UNKNOWN
     Dates: start: 20201207
  351. CLOZARIL [Suspect]
     Active Substance: CLOZAPINE
     Dosage: UNK
     Dates: start: 20191209, end: 20191223
  352. CLOZARIL [Suspect]
     Active Substance: CLOZAPINE
     Dosage: 1 DOSAGE FORM, EACH MORNING
     Route: 048
  353. CLOZARIL [Suspect]
     Active Substance: CLOZAPINE
     Dosage: 300 MG, 1X/DAY (PM)
  354. CLOZARIL [Suspect]
     Active Substance: CLOZAPINE
     Dosage: 275 MG, QD, PM
  355. CLOZARIL [Suspect]
     Active Substance: CLOZAPINE
     Dosage: 50 MG, QD, MIDDAY
  356. CLOZARIL [Suspect]
     Active Substance: CLOZAPINE
     Dosage: 50 MILLIGRAM MIDDAY
  357. CLOZARIL [Suspect]
     Active Substance: CLOZAPINE
     Dosage: 50 MILLIGRAM MIDDAY
  358. CLOZARIL [Suspect]
     Active Substance: CLOZAPINE
     Dosage: 200 MILLIGRAM, BID
     Route: 048
     Dates: start: 20191209, end: 20191223
  359. CLOZARIL [Suspect]
     Active Substance: CLOZAPINE
     Dosage: UNK UNK, AM (1 ONCE A DAY (AM))
  360. CLOZARIL [Suspect]
     Active Substance: CLOZAPINE
     Dosage: 275 MILLIGRAM, PM
  361. CLOZARIL [Suspect]
     Active Substance: CLOZAPINE
     Dosage: 275 MG, 1X/DAY (PM)
  362. CLOZARIL [Suspect]
     Active Substance: CLOZAPINE
     Dosage: 50 MG, DAILY
  363. CLOZARIL [Suspect]
     Active Substance: CLOZAPINE
     Dosage: 400 MG, DAILY
  364. CLOZARIL [Suspect]
     Active Substance: CLOZAPINE
     Dosage: UNKNOWN,UNKNOWN
     Dates: start: 20150930, end: 20151021
  365. CLOZARIL [Suspect]
     Active Substance: CLOZAPINE
     Dosage: 400 MG, UNK UNK, UNKNOWN
     Route: 048
     Dates: start: 20100823
  366. CLOZARIL [Suspect]
     Active Substance: CLOZAPINE
     Dosage: 400 MG, UNK, UNKNOWN
     Dates: start: 20191223, end: 20191223
  367. CLOZARIL [Suspect]
     Active Substance: CLOZAPINE
     Dosage: 245 MG
     Route: 048
     Dates: start: 20191209, end: 20191223
  368. CLOZARIL [Suspect]
     Active Substance: CLOZAPINE
     Dosage: 245 MG, QD (AM)
     Dates: start: 20191223, end: 20191223
  369. CLOZARIL [Suspect]
     Active Substance: CLOZAPINE
     Dosage: 400 MG, QD OFF LABEL USE
  370. CLOZARIL [Suspect]
     Active Substance: CLOZAPINE
     Dosage: 245 MILLIGRAM, ONCE A DAY
     Dates: start: 20191209, end: 20191223
  371. CLOZARIL [Suspect]
     Active Substance: CLOZAPINE
     Dosage: 100 MG, QD
  372. CLOZARIL [Suspect]
     Active Substance: CLOZAPINE
     Dosage: 300 MILLIGRAM, ONCE A DAY
     Route: 048
  373. CLOZARIL [Suspect]
     Active Substance: CLOZAPINE
     Dosage: 245 MILLIGRAM, ONCE A DAY
     Route: 048
     Dates: start: 2011
  374. CLOZARIL [Suspect]
     Active Substance: CLOZAPINE
     Dosage: 50 MG, QD(1X/DAY (MIDDAY))
     Route: 048
  375. CLOZARIL [Suspect]
     Active Substance: CLOZAPINE
     Dosage: 400 MG, QD
     Route: 048
     Dates: start: 20201207
  376. CLOZARIL [Suspect]
     Active Substance: CLOZAPINE
     Dosage: 6000 MG
     Route: 048
     Dates: start: 20201223, end: 20201223
  377. CLOZARIL [Suspect]
     Active Substance: CLOZAPINE
     Dosage: 400 MG
     Route: 048
     Dates: start: 20191223, end: 20191223
  378. CLOZARIL [Suspect]
     Active Substance: CLOZAPINE
     Dosage: 200 MILLIGRAM, TWO TIMES A DAY
     Route: 048
     Dates: start: 20191209
  379. CLOZARIL [Suspect]
     Active Substance: CLOZAPINE
     Dosage: 6000 MG
     Route: 048
     Dates: start: 20201207
  380. CLOZARIL [Suspect]
     Active Substance: CLOZAPINE
     Indication: Schizophrenia
     Dosage: 800 MILLIGRAM, DAILY, TABLET (UNCOATED, ORAL)
     Route: 048
  381. CLOZARIL [Suspect]
     Active Substance: CLOZAPINE
     Indication: Schizophrenia
     Dosage: 400 MILLIGRAM, DAILY, TABLET (UNCOATED, ORAL)
     Route: 048
     Dates: start: 2011
  382. CLOZARIL [Suspect]
     Active Substance: CLOZAPINE
     Dosage: 800 MILLIGRAM, DAILY, TABLET (UNCOATED, ORAL)
     Route: 048
     Dates: start: 20201207
  383. CLOZARIL [Suspect]
     Active Substance: CLOZAPINE
     Dosage: 200 MILLIGRAM, TWO TIMES A DAY, TABLET (UNCOATED, ORAL)
     Route: 048
  384. CLOZARIL [Suspect]
     Active Substance: CLOZAPINE
     Dosage: 50 MILLIGRAM, ONCE A DAY (50 MILLIGRAM,MIDDAY), TABLET (UNCOATED, ORAL)
  385. CLOZARIL [Suspect]
     Active Substance: CLOZAPINE
     Dosage: 245 MILLIGRAM, DAILY
     Route: 048
     Dates: start: 20191209, end: 20191223
  386. CLOZARIL [Suspect]
     Active Substance: CLOZAPINE
     Dosage: 245 MG, UNKNOWN, TABLET (UNCOATED, ORAL)
     Route: 048
     Dates: start: 20191209, end: 20191223
  387. CLOZARIL [Suspect]
     Active Substance: CLOZAPINE
     Dosage: 200 MILLIGRAM, TWO TIMES A DAY TABLET (UNCOATED, ORAL)
     Route: 048
     Dates: start: 20191209, end: 20191223
  388. CLOZARIL [Suspect]
     Active Substance: CLOZAPINE
     Dosage: UNK UNK, UNKNOWN, DAILY, TABLET (UNCOATED, ORAL)
     Route: 048
     Dates: start: 20201207
  389. CLOZARIL [Suspect]
     Active Substance: CLOZAPINE
     Dosage: 245 MG, TABLET (UNCOATED, ORAL)
     Dates: start: 20191207
  390. CLOZARIL [Suspect]
     Active Substance: CLOZAPINE
     Dosage: OFF LABEL USE, TABLET (UNCOATED, ORAL)
     Route: 048
     Dates: start: 20200521
  391. CLOZARIL [Suspect]
     Active Substance: CLOZAPINE
     Dosage: 1 DOSAGE FORM, ONCE A DAY (1 DF, EACH MORNING) TABLET (UNCOATED, ORAL)
     Route: 048
     Dates: start: 2011
  392. CLOZARIL [Suspect]
     Active Substance: CLOZAPINE
     Dosage: 245 MILLIGRAM, ONCE A DAY
     Route: 048
     Dates: start: 2011
  393. CLOZARIL [Suspect]
     Active Substance: CLOZAPINE
     Dosage: 245 MG, UNKNOWN, TABLET (UNCOATED, ORAL)
     Route: 048
     Dates: start: 20191223, end: 20191223
  394. CLOZARIL [Suspect]
     Active Substance: CLOZAPINE
     Dosage: 100 MILLIGRAM, ONCE A DAY AM, TABLET (UNCOATED, ORAL)
     Route: 048
  395. CLOZARIL [Suspect]
     Active Substance: CLOZAPINE
     Dosage: 50 MG, DAILY, TABLET (UNCOATED, ORAL)
     Route: 048
     Dates: start: 20191209, end: 20191223
  396. CLOZARIL [Suspect]
     Active Substance: CLOZAPINE
     Dosage: 300 MILLIGRAM, ONCE A DAY, TABLET (UNCOATED, ORAL)
     Route: 048
  397. CLOZARIL [Suspect]
     Active Substance: CLOZAPINE
     Dosage: 245 MILLIGRAM, TABLET (UNCOATED, ORAL)
     Route: 048
     Dates: start: 20100823
  398. CLOZARIL [Suspect]
     Active Substance: CLOZAPINE
     Dosage: 275 MILLIGRAM, ONCE A DAY PM, TABLET (UNCOATED, ORAL)
  399. CLOZARIL [Suspect]
     Active Substance: CLOZAPINE
     Dosage: 6000 MG
     Route: 048
     Dates: start: 20100823, end: 20100823
  400. CLOZARIL [Suspect]
     Active Substance: CLOZAPINE
     Dosage: 200 MILLIGRAM, ONCE A DAY, 200 MILLIGRAM, BID OFF LABEL USE TABLE (UNCOATED ORAL)
     Route: 048
  401. CLOZARIL [Suspect]
     Active Substance: CLOZAPINE
     Dosage: 245 MILLIGRAM, TABLET (UNCOATED, ORAL)
     Route: 048
     Dates: start: 20200521
  402. CLOZARIL [Suspect]
     Active Substance: CLOZAPINE
     Dosage: 1 DOSAGE FORM, EACH MORNING TABLET (UNCOATED, ORAL)
     Route: 048
     Dates: start: 2011
  403. CLOZARIL [Suspect]
     Active Substance: CLOZAPINE
     Dosage: UNK UNK, UNKNOWN, TABLET (UNCOATED ORAL)
     Route: 048
     Dates: start: 20100823
  404. CLOZARIL [Suspect]
     Active Substance: CLOZAPINE
     Dosage: UNK UNK, UNKNOWN, TABLET (UNCOATED, ORAL)
     Route: 048
     Dates: start: 20200521
  405. CLOZARIL [Suspect]
     Active Substance: CLOZAPINE
     Dosage: 300 MILLIGRAM, ONCE A DAY PM, TABLET (UNCOATED, ORAL)
     Route: 048
     Dates: start: 20100823
  406. CLOZARIL [Suspect]
     Active Substance: CLOZAPINE
     Dosage: 100 MG, TABLET (UNCOATED, ORAL)
  407. CLOZARIL [Suspect]
     Active Substance: CLOZAPINE
     Dosage: 245 MG, TABLET (UNCOATED, ORAL)
     Route: 048
     Dates: start: 20191209, end: 20191223
  408. CLOZARIL [Suspect]
     Active Substance: CLOZAPINE
     Dosage: 200 MILLIGRAM, TWO TIMES A DAY, TABLET (UNCOATED, ORAL)
     Route: 048
  409. CLOZARIL [Suspect]
     Active Substance: CLOZAPINE
     Dosage: 245 MILLIGRAM, QD
     Route: 048
     Dates: start: 20190823, end: 20190823
  410. CLOZARIL [Suspect]
     Active Substance: CLOZAPINE
     Dosage: 1 DOSAGE FORM, EACH MORNING
     Route: 048
  411. CLOZARIL [Suspect]
     Active Substance: CLOZAPINE
     Dosage: 100 MILLIGRAM, ONCE A DAY AM
     Route: 048
  412. CLOZARIL [Suspect]
     Active Substance: CLOZAPINE
     Dosage: 400 MG, DAILY
     Route: 048
  413. CLOZARIL [Suspect]
     Active Substance: CLOZAPINE
     Dosage: UNK
     Route: 048
     Dates: start: 20191223, end: 20191223
  414. CLOZARIL [Suspect]
     Active Substance: CLOZAPINE
     Dosage: 50 MILLIGRAM, ONCE A DAY (50 MILLIGRAM,MIDDAY)
  415. CLOZARIL [Suspect]
     Active Substance: CLOZAPINE
     Dosage: 300 MG, QD, PM
     Route: 048
     Dates: start: 20100823
  416. DOCETAXEL [Suspect]
     Active Substance: DOCETAXEL
     Indication: Breast cancer metastatic
     Dosage: 220 MILLIGRAM;
     Route: 065
     Dates: start: 20151222
  417. DOCETAXEL [Suspect]
     Active Substance: DOCETAXEL
     Dosage: 110 MG, Q3W (CUMULATIVE DOSE: 324.98)
     Route: 042
     Dates: start: 20150930, end: 20151021
  418. DOCETAXEL [Suspect]
     Active Substance: DOCETAXEL
     Dosage: UNK
     Dates: start: 20151222
  419. DOCETAXEL [Suspect]
     Active Substance: DOCETAXEL
     Dosage: 110 MG, Q3W (CUMULATIVE DOSE: 324.98)
     Dates: start: 20150930, end: 20151021
  420. DOCETAXEL [Suspect]
     Active Substance: DOCETAXEL
     Dosage: 110 MILLIGRAM, Q3WK
     Dates: start: 20151222
  421. DOCETAXEL [Suspect]
     Active Substance: DOCETAXEL
     Dosage: UNK
     Dates: start: 20151222
  422. DOCETAXEL [Suspect]
     Active Substance: DOCETAXEL
     Dosage: 220 MILLIGRAM
  423. DOCETAXEL [Suspect]
     Active Substance: DOCETAXEL
     Indication: Breast cancer metastatic
     Dosage: UNK
     Dates: start: 20151222
  424. DOCETAXEL [Suspect]
     Active Substance: DOCETAXEL
     Dosage: 110 MILLIGRAM, Q3W (CUMULATIVE DOSE: 324.98)/30-SEP-2015
     Route: 042
     Dates: start: 20150930, end: 20151021
  425. DOCETAXEL [Suspect]
     Active Substance: DOCETAXEL
     Indication: Product used for unknown indication
     Dosage: 220 MG
  426. DOCETAXEL [Suspect]
     Active Substance: DOCETAXEL
     Dosage: 330 MG (110 MG, QW3 (CUMULATIVE DOSE: 324.98))
     Dates: start: 20150930, end: 20151021
  427. DOCETAXEL [Suspect]
     Active Substance: DOCETAXEL
     Dosage: 220 MG
  428. DOCETAXEL [Suspect]
     Active Substance: DOCETAXEL
     Indication: Product used for unknown indication
     Dosage: 220 MG
  429. DOCETAXEL [Suspect]
     Active Substance: DOCETAXEL
     Dosage: ENTERPRISES DOCETAXEL
  430. RISPERDAL [Suspect]
     Active Substance: RISPERIDONE
     Indication: Schizophrenia
     Dosage: 6 MG, Q12H (3 MG, BID)
     Route: 048
  431. RISPERDAL [Suspect]
     Active Substance: RISPERIDONE
     Dosage: 4 MG, Q12H
  432. RISPERDAL [Suspect]
     Active Substance: RISPERIDONE
     Dosage: 6 MG
  433. RISPERDAL [Suspect]
     Active Substance: RISPERIDONE
     Dosage: 3 MG
     Route: 048
  434. RISPERDAL [Suspect]
     Active Substance: RISPERIDONE
     Dosage: 6 MG, QD
  435. RISPERDAL [Suspect]
     Active Substance: RISPERIDONE
     Dosage: 4 MILLIGRAM, ONCE A DAY (4 MG, QD) 2 MILLIGRAM, BID
  436. RISPERDAL [Suspect]
     Active Substance: RISPERIDONE
     Dosage: 1 G, QD
  437. RISPERDAL [Suspect]
     Active Substance: RISPERIDONE
     Dosage: 6 MG, QD
     Route: 048
  438. RISPERDAL [Suspect]
     Active Substance: RISPERIDONE
     Dosage: 2 MILLIGRAM, 2 MG, BID
  439. RISPERDAL [Suspect]
     Active Substance: RISPERIDONE
     Dosage: 4 MG, QD
  440. RISPERDAL [Suspect]
     Active Substance: RISPERIDONE
     Dosage: 1 MG, QD
  441. RISPERDAL [Suspect]
     Active Substance: RISPERIDONE
     Dosage: 2 MG, BID
  442. RISPERDAL [Suspect]
     Active Substance: RISPERIDONE
     Dosage: 1 GRAM, ONCE A DAY
  443. RISPERDAL [Suspect]
     Active Substance: RISPERIDONE
     Dosage: 6 MILLIGRAM, ONCE A DAY
     Route: 048
  444. RISPERDAL [Suspect]
     Active Substance: RISPERIDONE
     Dosage: 12 MG
  445. RISPERDAL [Suspect]
     Active Substance: RISPERIDONE
     Dosage: 3 MG, BID
     Route: 048
  446. RISPERDAL [Suspect]
     Active Substance: RISPERIDONE
     Dosage: 4 MILLIGRAM, ONCE A DAY ORALLY
     Route: 048
  447. RISPERDAL [Suspect]
     Active Substance: RISPERIDONE
     Dosage: 2 MG
  448. RISPERDAL [Suspect]
     Active Substance: RISPERIDONE
     Dosage: 3 MG
     Route: 048
  449. RISPERDAL [Suspect]
     Active Substance: RISPERIDONE
     Dosage: 1 G, DAILY
  450. RISPERDAL [Suspect]
     Active Substance: RISPERIDONE
     Dosage: 2 MILLIGRAM, TWO TIMES A DAY
  451. RISPERDAL [Suspect]
     Active Substance: RISPERIDONE
     Dosage: 4 MILLIGRAM, QD (2 MG, 2X/DAY)
  452. RISPERDAL [Suspect]
     Active Substance: RISPERIDONE
     Dosage: 1 G, QD
     Route: 048
  453. RISPERDAL [Suspect]
     Active Substance: RISPERIDONE
     Dosage: 6 MG, QD, 6 MILLIGRAM, ONCE A DAY (6 MG, QD
     Route: 048
  454. RISPERDAL [Suspect]
     Active Substance: RISPERIDONE
     Dosage: 1 MILLIGRAM, ONCE A DAY
  455. RISPERDAL [Suspect]
     Active Substance: RISPERIDONE
     Dosage: 4 MILLIGRAM, ONCE A DAY (4 MG, QD)
  456. RISPERDAL [Suspect]
     Active Substance: RISPERIDONE
     Dosage: 6 MILLIGRAM, QD (3 MG, 2X/DAY)
  457. RISPERDAL [Suspect]
     Active Substance: RISPERIDONE
     Dosage: 3 MILLIGRAM, TWO TIMES A DAY
     Route: 048
  458. RISPERDAL [Suspect]
     Active Substance: RISPERIDONE
     Dosage: UNK, QD
  459. HALOPERIDOL [Suspect]
     Active Substance: HALOPERIDOL
     Indication: Schizophrenia
     Dosage: 40 MILLIGRAM, QD (20 MG, BID)
     Route: 048
  460. HALOPERIDOL [Suspect]
     Active Substance: HALOPERIDOL
     Dosage: 10 MG, QD
     Route: 048
  461. HALOPERIDOL [Suspect]
     Active Substance: HALOPERIDOL
     Dosage: 5 MILLIGRAM, BID
     Route: 048
  462. HALOPERIDOL [Suspect]
     Active Substance: HALOPERIDOL
     Dosage: 10 MILLIGRAM, BID
     Route: 048
  463. HALOPERIDOL [Suspect]
     Active Substance: HALOPERIDOL
     Dosage: 10 MG, DAILY
     Route: 048
  464. HALOPERIDOL [Suspect]
     Active Substance: HALOPERIDOL
     Dosage: 5 MG, DAILY
     Route: 048
  465. HALOPERIDOL [Suspect]
     Active Substance: HALOPERIDOL
     Dosage: 10 MG, BID
     Route: 048
  466. HALOPERIDOL [Suspect]
     Active Substance: HALOPERIDOL
     Dosage: 10 MG, BID
     Route: 048
  467. HALOPERIDOL [Suspect]
     Active Substance: HALOPERIDOL
     Dosage: 20 MILLIGRAM, QD
     Route: 048
  468. HALOPERIDOL [Suspect]
     Active Substance: HALOPERIDOL
     Dosage: 10 MILLIGRAM, QD (5 MG, BID)
     Route: 048
  469. HALOPERIDOL [Suspect]
     Active Substance: HALOPERIDOL
     Dosage: 40 MG, QD
     Route: 048
  470. HALOPERIDOL [Suspect]
     Active Substance: HALOPERIDOL
     Dosage: 5 MG, BID
  471. HALOPERIDOL [Suspect]
     Active Substance: HALOPERIDOL
     Dosage: 5 MILLIGRAM, BID
     Route: 048
  472. HALOPERIDOL [Suspect]
     Active Substance: HALOPERIDOL
     Dosage: 10 MG, BID
     Route: 065
  473. HALOPERIDOL [Suspect]
     Active Substance: HALOPERIDOL
     Dosage: 10 MG, BID
     Route: 048
  474. HALOPERIDOL [Suspect]
     Active Substance: HALOPERIDOL
     Dosage: 20 MG, BID
     Route: 048
  475. HALOPERIDOL [Suspect]
     Active Substance: HALOPERIDOL
     Dosage: 20 MG, QD
     Route: 065
  476. HALOPERIDOL [Suspect]
     Active Substance: HALOPERIDOL
     Dosage: 10 MG, QD
     Route: 048
  477. HALOPERIDOL [Suspect]
     Active Substance: HALOPERIDOL
     Dosage: 5 MG, BID
     Route: 048
  478. HALOPERIDOL [Suspect]
     Active Substance: HALOPERIDOL
     Dosage: 5 MILLIGRAM, QD (5 MILLIGRAM, ONCE A DAY)
     Route: 048
  479. HALOPERIDOL [Suspect]
     Active Substance: HALOPERIDOL
     Dosage: 10 MILLIGRAM, QD
     Route: 048
  480. HALOPERIDOL [Suspect]
     Active Substance: HALOPERIDOL
     Dosage: 5 MG, BID
     Route: 048
  481. HALOPERIDOL [Suspect]
     Active Substance: HALOPERIDOL
     Dosage: 20 MILLIGRAM, BID (10 MILLIGRAM, BID )
     Route: 048
  482. HALOPERIDOL [Suspect]
     Active Substance: HALOPERIDOL
     Dosage: 20 MG, QD
     Route: 048
  483. HALOPERIDOL [Suspect]
     Active Substance: HALOPERIDOL
     Dosage: 10 MILLIGRAM, QD
     Route: 048
  484. HALOPERIDOL [Suspect]
     Active Substance: HALOPERIDOL
     Dosage: 10 MG, QD
     Route: 048
  485. HALOPERIDOL [Suspect]
     Active Substance: HALOPERIDOL
     Dosage: 20 MG, QD
     Route: 048
  486. HALOPERIDOL [Suspect]
     Active Substance: HALOPERIDOL
     Dosage: 10 MG, DAILY
  487. HALOPERIDOL [Suspect]
     Active Substance: HALOPERIDOL
     Dosage: 20 MILLIGRAM
     Route: 048
  488. HALOPERIDOL [Suspect]
     Active Substance: HALOPERIDOL
     Dosage: 5 MILLIGRAM, QD
     Route: 048
  489. HALOPERIDOL [Suspect]
     Active Substance: HALOPERIDOL
     Dosage: 10 MG, 5 MILLIGRAM, BID
     Route: 048
  490. HALOPERIDOL [Suspect]
     Active Substance: HALOPERIDOL
     Dosage: 40 MG, 20 MILLIGRAM, Q12H
     Route: 048
  491. HALOPERIDOL [Suspect]
     Active Substance: HALOPERIDOL
     Dosage: 5 MILLIGRAM, QD
     Route: 048
  492. HALOPERIDOL [Suspect]
     Active Substance: HALOPERIDOL
     Dosage: 10 MG, BID
  493. HALOPERIDOL [Suspect]
     Active Substance: HALOPERIDOL
     Dosage: 5 MG, BID
  494. HALOPERIDOL [Suspect]
     Active Substance: HALOPERIDOL
     Dosage: 5 MG, BID, UNIT DOSE :5 MG, FREQUENCY ; 1 , FREQUENCY TIME : 1 DAYS
     Route: 048
  495. HALOPERIDOL [Suspect]
     Active Substance: HALOPERIDOL
     Dosage: 20 UNK
     Route: 048
  496. HALOPERIDOL [Suspect]
     Active Substance: HALOPERIDOL
     Dosage: 10 MG, BID, UNIT DOSE : 10 MG, FREQUENCY ; 1 , FREQUENCY TIME : 1 DAYS,
  497. HALOPERIDOL [Suspect]
     Active Substance: HALOPERIDOL
     Dosage: 20 MILLIGRAM DAILY; UNIT DOSE : 20 MG, FREQUENCY ; 1 , FREQUENCY TIME : 1 DAYS)
  498. HALOPERIDOL [Suspect]
     Active Substance: HALOPERIDOL
     Dosage: 5 MILLIGRAM, BID, UNIT DOSE : 10 MG, FREQUENCY ; 1 , FREQUENCY TIME : 1 DAYS,
     Route: 048
  499. HALOPERIDOL [Suspect]
     Active Substance: HALOPERIDOL
     Dosage: 20 MILLIGRAM, ONCE A DAY (10 MILLIGRAM, BID)
     Route: 048
  500. HALOPERIDOL [Suspect]
     Active Substance: HALOPERIDOL
     Dosage: 10 MILLIGRAM, ONCE A DAY
     Route: 048
  501. HALOPERIDOL [Suspect]
     Active Substance: HALOPERIDOL
     Dosage: 40 MILLIGRAM, ONCE A DAY (20MG BID)
     Route: 048
  502. HALOPERIDOL [Suspect]
     Active Substance: HALOPERIDOL
     Dosage: 10 MILLIGRAM, ONCE A DAY (5 MILLIGRAM, BID)
     Route: 048
  503. HALOPERIDOL [Suspect]
     Active Substance: HALOPERIDOL
     Dosage: 10 MILLIGRAM, TWO TIMES A DAY (5 MG, BID)
     Route: 048
  504. HALOPERIDOL [Suspect]
     Active Substance: HALOPERIDOL
     Dosage: 20 MILLIGRAM, TWO TIMES A DAY (10 MG, 2X/DAY)
     Route: 048
  505. HALOPERIDOL [Suspect]
     Active Substance: HALOPERIDOL
     Dosage: 5 MILLIGRAM, ONCE A DAY
     Route: 048
  506. HALOPERIDOL [Suspect]
     Active Substance: HALOPERIDOL
     Dosage: 5 MILLIGRAM, TWO TIMES A DAY (5 MG, BID)
     Route: 048
  507. HALOPERIDOL [Suspect]
     Active Substance: HALOPERIDOL
     Dosage: 5 MG, BID 5 MILLIGRAM, TWO TIMES A DAY (5 MG, BID)
     Route: 048
  508. LITHIUM [Suspect]
     Active Substance: LITHIUM
     Indication: Product used for unknown indication
     Dosage: 1 MG
     Route: 048
  509. LITHIUM [Suspect]
     Active Substance: LITHIUM
     Dosage: UNK
     Route: 065
  510. LITHIUM [Suspect]
     Active Substance: LITHIUM
     Dosage: 2 GRAM
     Route: 048
  511. LITHIUM [Suspect]
     Active Substance: LITHIUM
     Dosage: 1 GRAM
     Route: 048
  512. LITHIUM [Suspect]
     Active Substance: LITHIUM
     Dosage: 1 MILLIGRAM
     Route: 048
  513. LITHIUM [Suspect]
     Active Substance: LITHIUM
     Dosage: 6 MG ONCE A DAY
     Route: 048
  514. LITHIUM [Suspect]
     Active Substance: LITHIUM
     Dosage: 2 G, UNKNOWN
     Route: 048
  515. LITHIUM [Suspect]
     Active Substance: LITHIUM
     Dosage: 1 G, UNKNOWN
     Route: 065
  516. LITHIUM [Suspect]
     Active Substance: LITHIUM
     Dosage: 6 MG, DAILY
     Route: 065
  517. LITHIUM [Suspect]
     Active Substance: LITHIUM
     Dosage: 1 GRAM
     Route: 048
  518. LITHIUM [Suspect]
     Active Substance: LITHIUM
     Dosage: 1 G, UNKNOWN
     Route: 065
  519. LITHIUM [Suspect]
     Active Substance: LITHIUM
     Dosage: UNK
  520. LITHIUM [Suspect]
     Active Substance: LITHIUM
     Dosage: 2 GRAM
     Route: 048
  521. LITHIUM [Suspect]
     Active Substance: LITHIUM
     Dosage: 2 GRAM
     Route: 065
  522. LITHIUM [Suspect]
     Active Substance: LITHIUM
     Dosage: 6 MILLIGRAM ONCE A DAY
     Route: 065
  523. LITHIUM [Suspect]
     Active Substance: LITHIUM
     Dosage: 1 GRAM
     Route: 048
  524. LITHIUM [Suspect]
     Active Substance: LITHIUM
     Dosage: 1 GRAM
  525. LITHIUM [Suspect]
     Active Substance: LITHIUM
     Dosage: 1 MG/1 MILLIGRAM
     Route: 048
  526. LITHIUM [Suspect]
     Active Substance: LITHIUM
     Dosage: 1 GRAM
  527. LITHIUM [Suspect]
     Active Substance: LITHIUM
     Dosage: 1 G
  528. LITHIUM [Suspect]
     Active Substance: LITHIUM
     Dosage: 1 G
  529. LITHIUM [Suspect]
     Active Substance: LITHIUM
     Dosage: 6 MILLIGRAM, QD
     Route: 048
  530. LITHIUM [Suspect]
     Active Substance: LITHIUM
     Dosage: 1 MG
  531. LITHIUM [Suspect]
     Active Substance: LITHIUM
     Dosage: 6 MILLIGRAM ONCE A DAY
  532. LITHIUM [Suspect]
     Active Substance: LITHIUM
     Dosage: 2 G
     Route: 048
  533. LITHIUM [Suspect]
     Active Substance: LITHIUM
     Dosage: 1 MILLIGRAM
     Route: 048
  534. LITHIUM [Suspect]
     Active Substance: LITHIUM
     Dosage: 1 GRAM
     Route: 048
  535. LITHIUM [Suspect]
     Active Substance: LITHIUM
     Dosage: 2 G
  536. LITHIUM [Suspect]
     Active Substance: LITHIUM
     Dosage: UNK
  537. LITHIUM [Suspect]
     Active Substance: LITHIUM
     Dosage: 1 GRAM
  538. LITHIUM [Suspect]
     Active Substance: LITHIUM
     Dosage: 1 MILLIGRAM
     Route: 048
  539. LITHIUM [Suspect]
     Active Substance: LITHIUM
     Dosage: 6 MILLIGRAM, ONCE A DAY
  540. OLANZAPINE [Suspect]
     Active Substance: OLANZAPINE
     Indication: Schizophrenia
     Dosage: 2.5 MG, DAILY
     Route: 065
     Dates: start: 20080823
  541. OLANZAPINE [Suspect]
     Active Substance: OLANZAPINE
     Dosage: 15 MG, UNKNOWN
     Dates: start: 20040217
  542. OLANZAPINE [Suspect]
     Active Substance: OLANZAPINE
     Dosage: 10 MG, UNKNOWN
  543. OLANZAPINE [Suspect]
     Active Substance: OLANZAPINE
     Dosage: 15 MILLIGRAM/ / START DATE:17-FEB-2004
     Route: 065
  544. OLANZAPINE [Suspect]
     Active Substance: OLANZAPINE
     Dosage: 1 MG, UNKNOWN
     Route: 048
  545. OLANZAPINE [Suspect]
     Active Substance: OLANZAPINE
     Dosage: 2.5 MG (23 AUG 2008)
     Route: 065
  546. OLANZAPINE [Suspect]
     Active Substance: OLANZAPINE
     Dosage: 15 MG/15 MG, UNKNOWN
     Route: 065
     Dates: start: 20060704
  547. OLANZAPINE [Suspect]
     Active Substance: OLANZAPINE
     Dosage: UNK
     Route: 065
  548. OLANZAPINE [Suspect]
     Active Substance: OLANZAPINE
     Dosage: 1 MILLIGRAM/1 MG
     Route: 048
  549. OLANZAPINE [Suspect]
     Active Substance: OLANZAPINE
     Dosage: 10 MG/10 MILLIGRAM
     Route: 065
  550. OLANZAPINE [Suspect]
     Active Substance: OLANZAPINE
     Dosage: 1 MG/1 MILLIGRAM
     Route: 048
  551. OLANZAPINE [Suspect]
     Active Substance: OLANZAPINE
     Dosage: 10 MILLIGRAM/10 MG
     Route: 065
  552. OLANZAPINE [Suspect]
     Active Substance: OLANZAPINE
     Dosage: 15 MILLIGRAM/04-JUL-2006
     Route: 065
  553. OLANZAPINE [Suspect]
     Active Substance: OLANZAPINE
     Dosage: UNK
     Route: 065
  554. OLANZAPINE [Suspect]
     Active Substance: OLANZAPINE
     Dosage: 2.5 MILLIGRAM/23-AUG-2008
     Dates: start: 20080823
  555. OLANZAPINE [Suspect]
     Active Substance: OLANZAPINE
     Dosage: 15 MILLIGRAM
     Route: 065
     Dates: start: 20060704
  556. OLANZAPINE [Suspect]
     Active Substance: OLANZAPINE
     Dosage: 15 MILLIGRAM
     Route: 065
     Dates: start: 20040217
  557. OLANZAPINE [Suspect]
     Active Substance: OLANZAPINE
     Dosage: 10 MG
  558. OLANZAPINE [Suspect]
     Active Substance: OLANZAPINE
     Dosage: 2.5 MG, UNKNOWN
     Dates: start: 20080823
  559. OLANZAPINE [Suspect]
     Active Substance: OLANZAPINE
     Dosage: UNK
  560. OLANZAPINE [Suspect]
     Active Substance: OLANZAPINE
     Dosage: 10 MG
  561. OLANZAPINE [Suspect]
     Active Substance: OLANZAPINE
     Dosage: UNK
  562. OLANZAPINE [Suspect]
     Active Substance: OLANZAPINE
     Dosage: 10 MG, UNKNOWN
  563. OLANZAPINE [Suspect]
     Active Substance: OLANZAPINE
     Dosage: 1 MG
  564. OLANZAPINE [Suspect]
     Active Substance: OLANZAPINE
     Dosage: 15 MILLIGRAM/START DATE 17-FEB-2004
     Route: 065
  565. OLANZAPINE [Suspect]
     Active Substance: OLANZAPINE
     Dosage: 1 MILLIGRAM
     Route: 048
  566. OLANZAPINE [Suspect]
     Active Substance: OLANZAPINE
     Dosage: 10 MILLIGRAM
  567. OLANZAPINE [Suspect]
     Active Substance: OLANZAPINE
     Dosage: 10 MG
  568. OLANZAPINE [Suspect]
     Active Substance: OLANZAPINE
     Dosage: 1 MG
     Route: 048
  569. OLANZAPINE [Suspect]
     Active Substance: OLANZAPINE
     Dosage: UNK
  570. OLANZAPINE [Suspect]
     Active Substance: OLANZAPINE
     Dosage: 2.5 MG
     Dates: start: 20080823
  571. OLANZAPINE [Suspect]
     Active Substance: OLANZAPINE
     Dosage: 15 MG, UNKNOWN
     Dates: start: 20060704
  572. OLANZAPINE [Suspect]
     Active Substance: OLANZAPINE
     Dosage: 15 MG
     Dates: start: 20040217
  573. OLANZAPINE [Suspect]
     Active Substance: OLANZAPINE
     Indication: Product used for unknown indication
     Dosage: 15 MILLIGRAM, UNKNOWN
     Route: 048
     Dates: start: 20040217
  574. OLANZAPINE [Suspect]
     Active Substance: OLANZAPINE
     Dosage: 2.5 MILLIGRAM
     Route: 048
     Dates: start: 20080823
  575. OLANZAPINE [Suspect]
     Active Substance: OLANZAPINE
     Dosage: 10 MILLIGRAM
     Route: 048
  576. OLANZAPINE [Suspect]
     Active Substance: OLANZAPINE
     Dosage: 10 MILLIGRAM
     Route: 048
  577. OLANZAPINE [Suspect]
     Active Substance: OLANZAPINE
     Dosage: 10 MILLIGRAM
     Route: 048
  578. OLANZAPINE [Suspect]
     Active Substance: OLANZAPINE
     Dosage: 15 MILLIGRAM
     Route: 048
     Dates: start: 20060704
  579. OLANZAPINE [Suspect]
     Active Substance: OLANZAPINE
     Dosage: 10 MILLIGRAM
     Route: 048
  580. OLANZAPINE [Suspect]
     Active Substance: OLANZAPINE
     Dosage: UNK
     Route: 048
  581. OLANZAPINE [Suspect]
     Active Substance: OLANZAPINE
     Dosage: UNK
     Route: 048
  582. OLANZAPINE [Suspect]
     Active Substance: OLANZAPINE
     Dosage: 15 MG, UNKNOWN
     Dates: start: 20060704
  583. OLANZAPINE [Suspect]
     Active Substance: OLANZAPINE
     Dosage: 10 MG, UNKNOWN
  584. OLANZAPINE [Suspect]
     Active Substance: OLANZAPINE
     Dosage: 15 MG, UNKNOWN
     Dates: start: 20040217
  585. OLANZAPINE [Suspect]
     Active Substance: OLANZAPINE
     Dosage: 2.5 MG, UNKNOWN
     Dates: start: 20080823
  586. OLANZAPINE [Suspect]
     Active Substance: OLANZAPINE
     Dosage: 1 MG
  587. OLANZAPINE [Suspect]
     Active Substance: OLANZAPINE
     Indication: Schizophrenia
     Dosage: 1 MILLIGRAM
     Route: 048
  588. PACLITAXEL [Suspect]
     Active Substance: PACLITAXEL
     Indication: Breast cancer metastatic
     Dosage: 120 MG, WEEKLY (1/W)
     Route: 042
     Dates: start: 20151111
  589. PACLITAXEL [Suspect]
     Active Substance: PACLITAXEL
     Dosage: 120 MG, QW (CUMULATIVE DOSE: 377.142)
     Route: 042
     Dates: start: 20151223, end: 20151223
  590. PACLITAXEL [Suspect]
     Active Substance: PACLITAXEL
     Dosage: 150 MG, QW (CUMULATIVE DOSE: 428.57 MG)
     Route: 042
     Dates: start: 20151111, end: 20151222
  591. PACLITAXEL [Suspect]
     Active Substance: PACLITAXEL
     Dosage: 150 MILLIGRAM, QW, START DATE: 11-NOV-2015
     Route: 042
     Dates: start: 20151111, end: 20151222
  592. PACLITAXEL [Suspect]
     Active Substance: PACLITAXEL
     Dosage: 120 MILLIGRAM, QW/23-DEC-2015
     Route: 042
     Dates: start: 20151223, end: 20151223
  593. PACLITAXEL [Suspect]
     Active Substance: PACLITAXEL
     Dosage: (CUMULATIVE DOSE: 428.57 MG)
     Dates: start: 20151111, end: 20151222
  594. PACLITAXEL [Suspect]
     Active Substance: PACLITAXEL
     Dosage: 120 MG QW (CUMULATIVE DOSE: 377.142)
     Dates: start: 20151223, end: 20151223
  595. PACLITAXEL [Suspect]
     Active Substance: PACLITAXEL
     Dosage: 120 UNK (CUMULATIVE DOSE 171.42857 MG)
     Dates: start: 20151111
  596. PACLITAXEL [Suspect]
     Active Substance: PACLITAXEL
     Dosage: 120 MILLIGRAM, QWK (CUMULATIVE DOSE: 891.4286 MG)
     Dates: start: 20151223, end: 20151223
  597. PACLITAXEL [Suspect]
     Active Substance: PACLITAXEL
     Dosage: 120 MILLIGRAM, QWK (CUMULATIVE DOSE: 891.4286 MG)
     Dates: start: 20151111
  598. PACLITAXEL [Suspect]
     Active Substance: PACLITAXEL
     Dosage: 120 MILLIGRAM
     Dates: start: 20151223, end: 20151223
  599. PACLITAXEL [Suspect]
     Active Substance: PACLITAXEL
     Dosage: 120 MG, WEEKLY (1/W)
     Dates: start: 20151111
  600. PACLITAXEL [Suspect]
     Active Substance: PACLITAXEL
     Dosage: 120 MG, QW (CUMULATIVE DOSE: 377.142) UNK
     Dates: start: 20151223, end: 20151223
  601. PACLITAXEL [Suspect]
     Active Substance: PACLITAXEL
     Dosage: 120 MG, WEEKLY (1/W)
     Dates: start: 20151111
  602. PACLITAXEL [Suspect]
     Active Substance: PACLITAXEL
     Dosage: 150 MG, QW (CUMULATIVE DOSE: 428.57 MG
     Dates: start: 20151111, end: 20151222
  603. PERTUZUMAB [Suspect]
     Active Substance: PERTUZUMAB
     Indication: Breast cancer metastatic
     Dosage: 420 MG, Q3W (CUMULATIVE DOSE: 820.83 MG)
     Route: 042
     Dates: start: 20151021
  604. PERTUZUMAB [Suspect]
     Active Substance: PERTUZUMAB
     Dosage: 840 MG, Q3W (CUMULATIVE DOSE: 2481.6667 MG)
     Route: 042
     Dates: start: 20150930
  605. PERTUZUMAB [Suspect]
     Active Substance: PERTUZUMAB
     Dosage: 2 U, WEEKLY (1/W)
     Route: 042
     Dates: start: 20151021
  606. PERTUZUMAB [Suspect]
     Active Substance: PERTUZUMAB
     Dosage: 840 MILLIGRAM, Q3W (CUMULATIVE DOSE: 2481.6667 MG)/30-SEP-2015
     Route: 042
     Dates: start: 20150930
  607. PERTUZUMAB [Suspect]
     Active Substance: PERTUZUMAB
     Dosage: 2 U, WEEKLY (1/W)
     Route: 042
     Dates: start: 20151021
  608. PERTUZUMAB [Suspect]
     Active Substance: PERTUZUMAB
     Dosage: 2 U, WEEKLY (1/W)
  609. PERTUZUMAB [Suspect]
     Active Substance: PERTUZUMAB
     Dosage: 420 MG, Q3W (CUMULATIVE DOSE: 820.83 MG)
     Dates: start: 20151021
  610. PERTUZUMAB [Suspect]
     Active Substance: PERTUZUMAB
     Dosage: UNK
  611. PERTUZUMAB [Suspect]
     Active Substance: PERTUZUMAB
     Dosage: 840 MG, Q3W (CUMULATIVE DOSE: 2481.6667 MG)
     Dates: start: 20150930
  612. PERTUZUMAB [Suspect]
     Active Substance: PERTUZUMAB
     Indication: Breast cancer metastatic
     Dosage: 2 U, WEEKLY (1/W)
  613. PERTUZUMAB [Suspect]
     Active Substance: PERTUZUMAB
     Dosage: 840 MG, Q3W (CUMULATIVE DOSE: 2481.6667 MG)
     Dates: start: 20150930
  614. PERTUZUMAB [Suspect]
     Active Substance: PERTUZUMAB
     Dosage: 420 MG, Q3W (CUMULATIVE DOSE: 820.83 MG)
     Dates: start: 20151021
  615. RISPERIDONE [Suspect]
     Active Substance: RISPERIDONE
     Indication: Schizophrenia
     Dosage: 2 MG, BID
     Route: 065
  616. RISPERIDONE [Suspect]
     Active Substance: RISPERIDONE
     Dosage: 3 MG, BID
     Route: 048
  617. RISPERIDONE [Suspect]
     Active Substance: RISPERIDONE
     Dosage: 1 GRAM, QD
     Route: 065
  618. RISPERIDONE [Suspect]
     Active Substance: RISPERIDONE
     Dosage: 1 MILLIGRAM, QD
     Route: 048
  619. RISPERIDONE [Suspect]
     Active Substance: RISPERIDONE
     Dosage: 2 MG, BID
  620. RISPERIDONE [Suspect]
     Active Substance: RISPERIDONE
     Dosage: 6 MILLIGRAM, QD (3 MG, 2X/DAY)
     Route: 065
  621. RISPERIDONE [Suspect]
     Active Substance: RISPERIDONE
     Dosage: 4 MILLIGRAM, QD
     Route: 048
  622. RISPERIDONE [Suspect]
     Active Substance: RISPERIDONE
     Dosage: 6 MILLIGRAM, QD
     Route: 065
  623. RISPERIDONE [Suspect]
     Active Substance: RISPERIDONE
     Dosage: 6 MG, DAILY
     Route: 048
  624. RISPERIDONE [Suspect]
     Active Substance: RISPERIDONE
     Dosage: 3 MG, BID
     Route: 048
  625. RISPERIDONE [Suspect]
     Active Substance: RISPERIDONE
     Dosage: 1 MILLIGRAM, QD
  626. RISPERIDONE [Suspect]
     Active Substance: RISPERIDONE
     Dosage: 3 MG, BID
     Route: 065
  627. RISPERIDONE [Suspect]
     Active Substance: RISPERIDONE
     Dosage: 2 MG, UNKNOWN
  628. RISPERIDONE [Suspect]
     Active Substance: RISPERIDONE
     Dosage: 1 G, QD
  629. RISPERIDONE [Suspect]
     Active Substance: RISPERIDONE
     Dosage: 6 MILLIGRAM, QD
  630. RISPERIDONE [Suspect]
     Active Substance: RISPERIDONE
     Dosage: 2 MG, BID
  631. RISPERIDONE [Suspect]
     Active Substance: RISPERIDONE
     Dosage: 2 MG, BID
  632. RISPERIDONE [Suspect]
     Active Substance: RISPERIDONE
     Dosage: 1 MG, DAILY
     Route: 065
  633. RISPERIDONE [Suspect]
     Active Substance: RISPERIDONE
     Dosage: 4 MILLIGRAM, QD
  634. RISPERIDONE [Suspect]
     Active Substance: RISPERIDONE
     Dosage: 4 MILLIGRAM, QD (2 MG, 2X/DAY)
     Route: 065
  635. RISPERIDONE [Suspect]
     Active Substance: RISPERIDONE
     Dosage: 1 GRAM, QD
  636. RISPERIDONE [Suspect]
     Active Substance: RISPERIDONE
     Dosage: 4 MILLIGRAM, QD
     Route: 065
  637. RISPERIDONE [Suspect]
     Active Substance: RISPERIDONE
     Dosage: 3 MG, BID
     Route: 048
  638. RISPERIDONE [Suspect]
     Active Substance: RISPERIDONE
     Dosage: 3 MG, DAILY
     Route: 048
  639. RISPERIDONE [Suspect]
     Active Substance: RISPERIDONE
     Dosage: 4 MILLIGRAM, QD (2 MILLIGRAM, BID )
     Route: 065
  640. RISPERIDONE [Suspect]
     Active Substance: RISPERIDONE
     Dosage: 6 MILLIGRAM, QD (3 MILLIGRAM, BID)
     Route: 065
  641. RISPERIDONE [Suspect]
     Active Substance: RISPERIDONE
     Dosage: 6 MILLIGRAM, QD (3 MILLIGRAM, BID)
     Route: 065
  642. RISPERIDONE [Suspect]
     Active Substance: RISPERIDONE
     Dosage: 1 GRAM, DAILY
     Route: 065
  643. RISPERIDONE [Suspect]
     Active Substance: RISPERIDONE
     Dosage: 6 MG, DAILY
  644. RISPERIDONE [Suspect]
     Active Substance: RISPERIDONE
     Dosage: 4 MG, DAILY
  645. RISPERIDONE [Suspect]
     Active Substance: RISPERIDONE
     Dosage: 4 MG, DAILY
  646. RISPERIDONE [Suspect]
     Active Substance: RISPERIDONE
     Dosage: 1 MG, DAILY
  647. RISPERIDONE [Suspect]
     Active Substance: RISPERIDONE
     Dosage: 6 MG, QD
  648. RISPERIDONE [Suspect]
     Active Substance: RISPERIDONE
     Dosage: 4 MG, QD, (2 MG BID)
  649. RISPERIDONE [Suspect]
     Active Substance: RISPERIDONE
     Dosage: 1 MG, QD
     Route: 065
  650. RISPERIDONE [Suspect]
     Active Substance: RISPERIDONE
     Dosage: 4 MG, QD
  651. RISPERIDONE [Suspect]
     Active Substance: RISPERIDONE
     Dosage: 6 MG, QD, (3 MG BID)
  652. RISPERIDONE [Suspect]
     Active Substance: RISPERIDONE
     Dosage: 1 G, DAILY
  653. RISPERIDONE [Suspect]
     Active Substance: RISPERIDONE
     Dosage: 1 MILLIGRAM
     Route: 048
  654. RISPERIDONE [Suspect]
     Active Substance: RISPERIDONE
     Dosage: 3 MILLIGRAM, QD
     Route: 048
  655. RISPERIDONE [Suspect]
     Active Substance: RISPERIDONE
     Dosage: 2 MILLIGRAM, QD
     Route: 048
  656. RISPERIDONE [Suspect]
     Active Substance: RISPERIDONE
     Dosage: 4 MG, QD
  657. RISPERIDONE [Suspect]
     Active Substance: RISPERIDONE
     Dosage: 4 MG, QD, ( 2 MG BID)
  658. RISPERIDONE [Suspect]
     Active Substance: RISPERIDONE
     Dosage: 2 MG, BID
  659. RISPERIDONE [Suspect]
     Active Substance: RISPERIDONE
     Dosage: 3 MG, BID
  660. RISPERIDONE [Suspect]
     Active Substance: RISPERIDONE
     Dosage: 1 MG, QD
     Route: 065
  661. RISPERIDONE [Suspect]
     Active Substance: RISPERIDONE
     Dosage: 2 MG, BID
  662. RISPERIDONE [Suspect]
     Active Substance: RISPERIDONE
     Dosage: 6 MILLIGRAM, ONCE A DAY
     Route: 048
  663. RISPERIDONE [Suspect]
     Active Substance: RISPERIDONE
     Dosage: 1 GRAM, ONCE A DAY
     Route: 048
  664. RISPERIDONE [Suspect]
     Active Substance: RISPERIDONE
     Dosage: 3 MILLIGRAM, TWO TIMES A DAY (3 MG, BID)
     Route: 048
  665. RISPERIDONE [Suspect]
     Active Substance: RISPERIDONE
     Indication: Schizophrenia
     Dosage: 2 MILLIGRAM, TWO TIMES A DAY (2 MG, BID)
  666. RISPERIDONE [Suspect]
     Active Substance: RISPERIDONE
     Dosage: 1 GRAM, ONCE A DAY
     Route: 048
  667. RISPERIDONE [Suspect]
     Active Substance: RISPERIDONE
     Dosage: 3 MILLIGRAM, TWO TIMES A DAY (3 MG, BID)
     Route: 048
  668. RISPERIDONE [Suspect]
     Active Substance: RISPERIDONE
     Dosage: 1 MILLIGRAM, DAILY
     Route: 048
  669. RISPERIDONE [Suspect]
     Active Substance: RISPERIDONE
     Dosage: 4 MILLIGRAM, ONCE A DAY
     Route: 048
  670. RISPERIDONE [Suspect]
     Active Substance: RISPERIDONE
     Dosage: 2 MILLIGRAM, TWO TIMES A DAY (2 MG, BID)
  671. RISPERIDONE [Suspect]
     Active Substance: RISPERIDONE
     Dosage: (2 MG, BID)
  672. RISPERIDONE [Suspect]
     Active Substance: RISPERIDONE
     Dosage: 1 MILLIGRAM, DAILY
  673. RISPERIDONE [Suspect]
     Active Substance: RISPERIDONE
     Dosage: 6 MILLIGRAM, ONCE A DAY
  674. RISPERIDONE [Suspect]
     Active Substance: RISPERIDONE
     Dosage: 4 MILLIGRAM, ONCE A DAY
     Route: 048
  675. RISPERIDONE [Suspect]
     Active Substance: RISPERIDONE
     Dosage: 3 MILLIGRAM, TWO TIMES A DAY (3 MG, BID)
  676. RISPERIDONE [Suspect]
     Active Substance: RISPERIDONE
     Dosage: 1 GRAM, ONCE A DAY
     Route: 048
  677. RISPERIDONE [Suspect]
     Active Substance: RISPERIDONE
     Dosage: 6 MILLIGRAM, ONCE A DAY
  678. XGEVA [Suspect]
     Active Substance: DENOSUMAB
     Indication: Metastases to bone
     Dosage: 120 MG
     Dates: start: 20150930
  679. XGEVA [Suspect]
     Active Substance: DENOSUMAB
     Indication: Gastrooesophageal reflux disease
     Dosage: 120 MG, QD
     Dates: start: 20150930
  680. ZUCLOPENTHIXOL [Suspect]
     Active Substance: ZUCLOPENTHIXOL
     Indication: Product used for unknown indication
     Dosage: 400 MILLIGRAM, CYCLE (400 MILLIGRAM, CYCLICAL, (400 MG, CYCLIC (400 MG, BIWEEKLY)
     Route: 065
     Dates: start: 20040217, end: 20040601
  681. ZUCLOPENTHIXOL [Suspect]
     Active Substance: ZUCLOPENTHIXOL
     Dosage: 300 MG, WEEKLY (1/W) (CUMULATIVE DOSE:20800 MG)
     Dates: start: 20091009
  682. ZUCLOPENTHIXOL [Suspect]
     Active Substance: ZUCLOPENTHIXOL
     Dosage: 300 MG, WEEKLY (1/W), (CUMULATIVE DOSE TO: 20800 MG)
     Dates: start: 20091018
  683. ZUCLOPENTHIXOL [Suspect]
     Active Substance: ZUCLOPENTHIXOL
     Dosage: 400 MG, WEEKLY (1/W), (CUMULATIVE DOSE:20800 MG)
     Dates: start: 20040217, end: 20040601
  684. ZUCLOPENTHIXOL [Suspect]
     Active Substance: ZUCLOPENTHIXOL
     Dosage: 300 MG (CUMULATIVE DOSE:20800 MG)
     Dates: start: 20091009
  685. ZUCLOPENTHIXOL [Suspect]
     Active Substance: ZUCLOPENTHIXOL
     Dosage: 400 MG, CYCLIC (400 MG, BIWEEKLY) (CUMULATIVE DOSE:20800 MG)
     Dates: start: 20030204, end: 20040217
  686. ZUCLOPENTHIXOL [Suspect]
     Active Substance: ZUCLOPENTHIXOL
     Dosage: (CUMULATIVE DOSE:20800 MG)
  687. ZUCLOPENTHIXOL [Suspect]
     Active Substance: ZUCLOPENTHIXOL
     Dosage: 400 MG, CYCLIC (400 MG, BIWEEKLY) (CUMULATIVE DOSE:20800 MG)
     Dates: start: 20040601, end: 20041018
  688. ZUCLOPENTHIXOL [Suspect]
     Active Substance: ZUCLOPENTHIXOL
     Dosage: 400 MG, OTHER (BIWEEKLY) (CUMULATIVE DOSE:20800 MG)
     Dates: start: 20041018, end: 20041018
  689. ZUCLOPENTHIXOL [Suspect]
     Active Substance: ZUCLOPENTHIXOL
     Dosage: 400 MG, OTHER (BIWEEKLY)
     Dates: start: 20041018, end: 20041018
  690. ZUCLOPENTHIXOL [Suspect]
     Active Substance: ZUCLOPENTHIXOL
     Dosage: 400 MG, CYCLIC (400 MG, BIWEEKLY); CYCLICAL
     Dates: start: 20040204, end: 20040217
  691. ZUCLOPENTHIXOL [Suspect]
     Active Substance: ZUCLOPENTHIXOL
     Dosage: 300 MG, QD
     Route: 030
     Dates: start: 20091009
  692. ZUCLOPENTHIXOL [Suspect]
     Active Substance: ZUCLOPENTHIXOL
     Dosage: 400 MG, QW
     Dates: start: 20040207, end: 20040601
  693. ZUCLOPENTHIXOL [Suspect]
     Active Substance: ZUCLOPENTHIXOL
     Dosage: CYCLE
     Dates: start: 20091018
  694. ZUCLOPENTHIXOL [Suspect]
     Active Substance: ZUCLOPENTHIXOL
     Dosage: 400 MG, BIW
     Dates: start: 20030204, end: 20040217
  695. ZUCLOPENTHIXOL [Suspect]
     Active Substance: ZUCLOPENTHIXOL
     Dosage: UNK
  696. ZUCLOPENTHIXOL [Suspect]
     Active Substance: ZUCLOPENTHIXOL
     Dosage: 400 MILLIGRAM, EVERY WEEK
  697. ZUCLOPENTHIXOL [Suspect]
     Active Substance: ZUCLOPENTHIXOL
     Dosage: 400 MILLIGRAM
     Dates: start: 20091018
  698. ZUCLOPENTHIXOL [Suspect]
     Active Substance: ZUCLOPENTHIXOL
     Dosage: 400 MG, CYCLIC (400 MG, BIWEEKLY)
     Dates: start: 20030204, end: 20040217
  699. ZUCLOPENTHIXOL [Suspect]
     Active Substance: ZUCLOPENTHIXOL
     Dosage: 400 MG, CYCLIC (400 MG, BIWEEKLY)
     Dates: start: 20040601, end: 20041018
  700. ZUCLOPENTHIXOL [Suspect]
     Active Substance: ZUCLOPENTHIXOL
     Dosage: 400 MILLIGRAM, WEEKLY/17-FEB-2004
     Dates: start: 20040601
  701. ZUCLOPENTHIXOL [Suspect]
     Active Substance: ZUCLOPENTHIXOL
     Dosage: 800 MG, QW, (04 FEB 2003)
     Dates: start: 20040217
  702. ZUCLOPENTHIXOL [Suspect]
     Active Substance: ZUCLOPENTHIXOL
     Dosage: 400 MILLIGRAM, EVERY WEEK
     Dates: start: 20041018
  703. ZUCLOPENTHIXOL [Suspect]
     Active Substance: ZUCLOPENTHIXOL
     Dosage: 300 MG, QW (300 MILLIGRAM I.M WEEKLY)
     Route: 030
     Dates: start: 20091009
  704. ZUCLOPENTHIXOL [Suspect]
     Active Substance: ZUCLOPENTHIXOL
     Dosage: 400 MG, BIW
     Dates: start: 20040601, end: 20041018
  705. ZUCLOPENTHIXOL [Suspect]
     Active Substance: ZUCLOPENTHIXOL
     Dosage: 400 MG, BIW
     Dates: start: 20041018, end: 20041018
  706. ZUCLOPENTHIXOL [Suspect]
     Active Substance: ZUCLOPENTHIXOL
     Dosage: 300 MG, QW
     Route: 030
     Dates: start: 20091018
  707. ZUCLOPENTHIXOL [Suspect]
     Active Substance: ZUCLOPENTHIXOL
     Dosage: 400 MILLIGRAM, EVERY WEEK
  708. ZUCLOPENTHIXOL [Suspect]
     Active Substance: ZUCLOPENTHIXOL
     Dosage: 400 MG, QCY
     Dates: start: 20040217, end: 20040601
  709. ZUCLOPENTHIXOL [Suspect]
     Active Substance: ZUCLOPENTHIXOL
     Dosage: 300 MILLIGRAM, QD (300 MILLIGRAM I.M WEEKLY)09-OCT-2009
     Route: 030
  710. ZUCLOPENTHIXOL [Suspect]
     Active Substance: ZUCLOPENTHIXOL
     Dosage: 300 MG, WEEKLY
  711. ZUCLOPENTHIXOL [Suspect]
     Active Substance: ZUCLOPENTHIXOL
     Dosage: 400 MILLIGRAM, CYCLICAL, (400 MG, CYCLIC (400 MG, BIWEEKLY)
     Dates: start: 20040217, end: 20040601
  712. ZUCLOPENTHIXOL [Suspect]
     Active Substance: ZUCLOPENTHIXOL
     Indication: Product used for unknown indication
     Dosage: 400 MILLIGRAM, CYCLE (400 MILLIGRAM, CYCLICAL, (400 MG, CYCLIC (400 MG, BIWEEKLY))
     Dates: start: 20040217, end: 20040601
  713. PIPERACILLIN SODIUM\TAZOBACTAM SODIUM [Suspect]
     Active Substance: PIPERACILLIN SODIUM\TAZOBACTAM SODIUM
     Indication: Febrile neutropenia
     Dosage: UNK (END DATE: NOV 2015)
     Dates: start: 20151121
  714. AMOXICILLIN\CLAVULANATE POTASSIUM [Concomitant]
     Active Substance: AMOXICILLIN\CLAVULANATE POTASSIUM
     Indication: Product used for unknown indication
     Dosage: 2500 MG, QD (625 MG, QID)
     Route: 048
     Dates: start: 20151122
  715. AMOXICILLIN\CLAVULANATE POTASSIUM [Concomitant]
     Active Substance: AMOXICILLIN\CLAVULANATE POTASSIUM
     Indication: Febrile neutropenia
     Dosage: 625 MG (EVERY 0.33 DAYS, CUMULATIVE DOSE: 16875)
     Route: 048
     Dates: start: 20151122, end: 20151125
  716. AMOXICILLIN\CLAVULANATE POTASSIUM [Concomitant]
     Active Substance: AMOXICILLIN\CLAVULANATE POTASSIUM
     Dosage: 625 MG, QID
     Route: 048
     Dates: start: 20151122, end: 20151122
  717. AMOXICILLIN\CLAVULANATE POTASSIUM [Concomitant]
     Active Substance: AMOXICILLIN\CLAVULANATE POTASSIUM
     Dosage: 625 MG, QID (CUMULATIVE DOSE:52500.0 MG)
     Dates: start: 20151122
  718. AMOXICILLIN\CLAVULANATE POTASSIUM [Concomitant]
     Active Substance: AMOXICILLIN\CLAVULANATE POTASSIUM
     Dosage: 120 MG, OTHER (EVERY 9 WEEKS)
     Dates: start: 20151111
  719. AMOXICILLIN\CLAVULANATE POTASSIUM [Concomitant]
     Active Substance: AMOXICILLIN\CLAVULANATE POTASSIUM
     Dosage: 625 MG, QID (CUMMULATIVE DOSE:25000.0MG)
     Dates: start: 20151111
  720. AMOXICILLIN\CLAVULANATE POTASSIUM [Concomitant]
     Active Substance: AMOXICILLIN\CLAVULANATE POTASSIUM
     Dosage: 625 MG (EVERY 0.33 DAYS, CUMULATIVE DOSE: 16875)
     Dates: start: 20151122, end: 20151125
  721. AMOXICILLIN\CLAVULANATE POTASSIUM [Concomitant]
     Active Substance: AMOXICILLIN\CLAVULANATE POTASSIUM
     Dosage: 150 MG, EVERY 9 WEEK (OTHER)
     Dates: start: 20151111
  722. AMOXICILLIN\CLAVULANATE POTASSIUM [Concomitant]
     Active Substance: AMOXICILLIN\CLAVULANATE POTASSIUM
     Dosage: 2500 MG, QD (625 MG QID)
  723. AMOXICILLIN\CLAVULANATE POTASSIUM [Concomitant]
     Active Substance: AMOXICILLIN\CLAVULANATE POTASSIUM
     Indication: Febrile neutropenia
     Dosage: 120 MG, OTHER (EVERY 9 WEEKS)
     Dates: start: 20151111
  724. AMOXICILLIN\CLAVULANATE POTASSIUM [Concomitant]
     Active Substance: AMOXICILLIN\CLAVULANATE POTASSIUM
     Dosage: 625 MG, QID
     Dates: start: 20151122, end: 20151125
  725. AMOXICILLIN\CLAVULANATE POTASSIUM [Concomitant]
     Active Substance: AMOXICILLIN\CLAVULANATE POTASSIUM
     Dosage: 625 MG (EVERY 0.33 DAYS, CUMULATIVE DOSE: 16875)
     Dates: start: 20151122, end: 20151125
  726. AMOXICILLIN\CLAVULANATE POTASSIUM [Concomitant]
     Active Substance: AMOXICILLIN\CLAVULANATE POTASSIUM
     Dosage: 2500 MILLIGRAM
     Dates: start: 20151125
  727. CALCIUM\CHOLECALCIFEROL [Concomitant]
     Active Substance: CALCIUM\CHOLECALCIFEROL
     Indication: Product used for unknown indication
     Dosage: 2 DF, QD (DOSE FORM: 245)
     Route: 048
     Dates: start: 20091018
  728. CALCIUM\CHOLECALCIFEROL [Concomitant]
     Active Substance: CALCIUM\CHOLECALCIFEROL
     Dosage: 2 DF
     Dates: start: 20091018
  729. CALCIUM\CHOLECALCIFEROL [Concomitant]
     Active Substance: CALCIUM\CHOLECALCIFEROL
     Dosage: UNK
     Dates: start: 20091018
  730. CALCIUM\CHOLECALCIFEROL [Concomitant]
     Active Substance: CALCIUM\CHOLECALCIFEROL
     Dosage: 2 DOSAGE FORM
  731. CALCIUM\CHOLECALCIFEROL [Concomitant]
     Active Substance: CALCIUM\CHOLECALCIFEROL
     Dosage: 2 DOSAGE FORM, QD
     Dates: start: 20090118
  732. CALCIUM\CHOLECALCIFEROL [Concomitant]
     Active Substance: CALCIUM\CHOLECALCIFEROL
     Indication: Product used for unknown indication
     Dosage: 2 DOSAGE FORM, QD
     Route: 048
  733. CALCIUM\CHOLECALCIFEROL [Concomitant]
     Active Substance: CALCIUM\CHOLECALCIFEROL
     Dosage: DAILY
  734. CALCIUM\CHOLECALCIFEROL [Concomitant]
     Active Substance: CALCIUM\CHOLECALCIFEROL
     Dosage: 1 , 1 DAY
  735. CALCIUM\CHOLECALCIFEROL [Concomitant]
     Active Substance: CALCIUM\CHOLECALCIFEROL
     Dosage: UNK
     Dates: start: 20091018
  736. CALCIUM\CHOLECALCIFEROL [Concomitant]
     Active Substance: CALCIUM\CHOLECALCIFEROL
     Indication: Product used for unknown indication
     Dosage: UNK
     Dates: start: 20091018
  737. CALCIUM\CHOLECALCIFEROL [Concomitant]
     Active Substance: CALCIUM\CHOLECALCIFEROL
     Dosage: 2 DF
  738. CHLORPHENIRAMINE MALEATE [Concomitant]
     Active Substance: CHLORPHENIRAMINE MALEATE
     Indication: Product used for unknown indication
     Dosage: 10 MILLIGRAM, QW(CUMULATIVE DOSE 28.57)
     Route: 058
     Dates: start: 20151111
  739. CHLORPHENIRAMINE MALEATE [Concomitant]
     Active Substance: CHLORPHENIRAMINE MALEATE
     Dosage: UNK
  740. CHLORPHENIRAMINE MALEATE [Concomitant]
     Active Substance: CHLORPHENIRAMINE MALEATE
     Dosage: 10 MG, WEEKLY (1/W)
     Route: 058
     Dates: start: 20151111
  741. CHLORPHENIRAMINE MALEATE [Concomitant]
     Active Substance: CHLORPHENIRAMINE MALEATE
     Dosage: 10 MG, 1/WEEK (CUMMULATIVE DOSE: 1638.571MG)
     Dates: start: 20151111
  742. CHLORPHENIRAMINE MALEATE [Concomitant]
     Active Substance: CHLORPHENIRAMINE MALEATE
     Dosage: 10 MG (1 WEEK, CUMULATIVE DOSE: 14.285714 MG)
     Dates: start: 20151111
  743. CHLORPHENIRAMINE MALEATE [Concomitant]
     Active Substance: CHLORPHENIRAMINE MALEATE
     Dosage: 10 MILLIGRAM, QWK
     Dates: start: 20151111
  744. CHLORPHENIRAMINE MALEATE [Concomitant]
     Active Substance: CHLORPHENIRAMINE MALEATE
     Dosage: 10 MG, QW (CUMULATIVE DOSE 28.57)
     Route: 058
     Dates: start: 20151111
  745. CHLORPHENIRAMINE MALEATE [Concomitant]
     Active Substance: CHLORPHENIRAMINE MALEATE
     Dosage: 10 MILLIGRAM, WEEKLY
     Dates: start: 20151111
  746. AMOXICILLIN\CLAVULANATE POTASSIUM [Concomitant]
     Active Substance: AMOXICILLIN\CLAVULANATE POTASSIUM
     Indication: Febrile neutropenia
     Dosage: 625 MG (EVERY 0.33 DAYS, CUMULATIVE DOSE: 16875)
     Route: 048
     Dates: start: 20151122, end: 20151125
  747. AMOXICILLIN\CLAVULANATE POTASSIUM [Concomitant]
     Active Substance: AMOXICILLIN\CLAVULANATE POTASSIUM
     Dosage: 625 MG, QID
     Route: 048
     Dates: start: 20151122
  748. AMOXICILLIN\CLAVULANATE POTASSIUM [Concomitant]
     Active Substance: AMOXICILLIN\CLAVULANATE POTASSIUM
     Dosage: 2500 MG
     Dates: start: 20151122, end: 20151125
  749. AMOXICILLIN\CLAVULANATE POTASSIUM [Concomitant]
     Active Substance: AMOXICILLIN\CLAVULANATE POTASSIUM
     Dosage: 625 MG
  750. AMOXICILLIN\CLAVULANATE POTASSIUM [Concomitant]
     Active Substance: AMOXICILLIN\CLAVULANATE POTASSIUM
     Dosage: 120 MG
  751. AMOXICILLIN\CLAVULANATE POTASSIUM [Concomitant]
     Active Substance: AMOXICILLIN\CLAVULANATE POTASSIUM
     Dosage: 625 MG
     Dates: start: 20151111
  752. AMOXICILLIN\CLAVULANATE POTASSIUM [Concomitant]
     Active Substance: AMOXICILLIN\CLAVULANATE POTASSIUM
     Dosage: (NON MAH)
     Dates: start: 20151122
  753. CHOLECALCIFEROL [Concomitant]
     Active Substance: CHOLECALCIFEROL
     Indication: Product used for unknown indication
     Dosage: 2 DOSAGE FORM, DAILY/QD
     Route: 048
  754. CHOLECALCIFEROL [Concomitant]
     Active Substance: CHOLECALCIFEROL
     Dosage: 2 DF
     Route: 048
  755. CHOLECALCIFEROL [Concomitant]
     Active Substance: CHOLECALCIFEROL
     Dosage: 2 DOSAGE FORM, QD
     Route: 048
  756. CHOLECALCIFEROL [Concomitant]
     Active Substance: CHOLECALCIFEROL
     Dosage: 2 DF, 1 DAY
  757. CHOLECALCIFEROL [Concomitant]
     Active Substance: CHOLECALCIFEROL
     Dosage: UNK
  758. DENOSUMAB [Concomitant]
     Active Substance: DENOSUMAB
     Indication: Metastases to bone
     Dosage: 120 MG, EVERY 9 WEEKS, (CUMULATIVE DOSE: 118.174)/120 MG, OTHER (EVERY 9 WEEKS)
     Route: 058
     Dates: start: 20150930
  759. DENOSUMAB [Concomitant]
     Active Substance: DENOSUMAB
     Indication: Gastrooesophageal reflux disease
     Dosage: UNK
  760. DENOSUMAB [Concomitant]
     Active Substance: DENOSUMAB
     Dosage: 120 MILLIGRAM, EVERY 9 WEEKS/30-SEP-2015120 MG,(CUMULATIVE DOSE: 118.174)
     Route: 058
     Dates: start: 20150930
  761. DENOSUMAB [Concomitant]
     Active Substance: DENOSUMAB
     Dosage: 120 MG
     Dates: start: 20150930
  762. DENOSUMAB [Concomitant]
     Active Substance: DENOSUMAB
     Dosage: 120 MG, 9 WEEK (CUMULATIVE DOSE: 61.031746 MG)
     Dates: start: 20150930
  763. DENOSUMAB [Concomitant]
     Active Substance: DENOSUMAB
     Dosage: 625 MG, QID (CUMMULATIVE DOSE: 3844.99999 MG)
     Dates: start: 20150930
  764. DENOSUMAB [Concomitant]
     Active Substance: DENOSUMAB
     Dosage: 120 MILLIGRAM, OTHER (EVERY 9 WEEKS)
     Dates: start: 20150930
  765. DENOSUMAB [Concomitant]
     Active Substance: DENOSUMAB
     Dosage: 120 MILLIGRAM, QD
     Dates: start: 20150930
  766. DENOSUMAB [Concomitant]
     Active Substance: DENOSUMAB
     Dosage: 120 MG, OTHER (EVERY 9 WEEKS)
     Dates: start: 20150930
  767. DENOSUMAB [Concomitant]
     Active Substance: DENOSUMAB
     Dosage: 120 MG, QD (625 MG, QID)
  768. DENOSUMAB [Concomitant]
     Active Substance: DENOSUMAB
     Dosage: 120 MG, OTHER (EVERY 9 WEEKS)
  769. DENOSUMAB [Concomitant]
     Active Substance: DENOSUMAB
     Dosage: QID (FOUR TIMES A DAY)
  770. DENOSUMAB [Concomitant]
     Active Substance: DENOSUMAB
     Dosage: 120 MG (CUMULATIVE DOSE: 7445 MG)
     Dates: start: 20150930
  771. DENOSUMAB [Concomitant]
     Active Substance: DENOSUMAB
     Dosage: UNK
  772. DENOSUMAB [Concomitant]
     Active Substance: DENOSUMAB
     Dosage: 625 MG, QID
     Dates: start: 20190930
  773. DENOSUMAB [Concomitant]
     Active Substance: DENOSUMAB
     Dosage: 120 MG, OTHER (EVERY 9 WEEKS)
     Dates: start: 20150930
  774. DULOXETINE [Concomitant]
     Active Substance: DULOXETINE
     Indication: Product used for unknown indication
     Dosage: UNK
  775. DULOXETINE [Concomitant]
     Active Substance: DULOXETINE
     Dosage: UNK
  776. GENTAMICIN [Concomitant]
     Active Substance: GENTAMICIN
     Indication: Febrile neutropenia
     Dosage: STOP DATE: ??-NOV-2015 00:00
     Route: 042
     Dates: start: 20151121
  777. GENTAMICIN [Concomitant]
     Active Substance: GENTAMICIN
     Dosage: UNK/START DATE: 21-NOV-2015 (END DATE: NOV 2015)
     Route: 042
     Dates: start: 20151121
  778. GENTAMICIN [Concomitant]
     Active Substance: GENTAMICIN
     Indication: Febrile neutropenia
     Dosage: STOP DATE: ??-NOV-2015
     Route: 042
     Dates: start: 20151121
  779. LEVOFLOXACIN [Concomitant]
     Active Substance: LEVOFLOXACIN
     Indication: Febrile neutropenia
     Dosage: 500 MG, DAILY (CUMULATIVE DOSE: 3000)
     Route: 048
     Dates: start: 20151125
  780. LEVOFLOXACIN [Concomitant]
     Active Substance: LEVOFLOXACIN
     Dosage: 500 MILLIGRAM, QD,500 MG, QD(CUMULATIVE DOSE: 3000)
     Route: 048
     Dates: start: 20151125
  781. LEVOFLOXACIN [Concomitant]
     Active Substance: LEVOFLOXACIN
     Dosage: 500 MG, QD DAILY
     Dates: start: 20151125
  782. LEVOFLOXACIN [Concomitant]
     Active Substance: LEVOFLOXACIN
     Dosage: 500 MILLIGRAM, QD (CUMULATIVE DOSE TO FIRST REACTION:566500.0 MG)
  783. LEVOFLOXACIN [Concomitant]
     Active Substance: LEVOFLOXACIN
     Dosage: 500 MG, QD
     Dates: start: 20151125
  784. LEVOFLOXACIN [Concomitant]
     Active Substance: LEVOFLOXACIN
     Dosage: 500 MG, DAILY
     Dates: start: 20151125
  785. MIRTAZAPINE [Concomitant]
     Active Substance: MIRTAZAPINE
     Dosage: 15 MG, DAILY
  786. MIRTAZAPINE [Concomitant]
     Active Substance: MIRTAZAPINE
     Dosage: 15 MG, DAILY
     Dates: start: 201510
  787. MORPHINE [Concomitant]
     Active Substance: MORPHINE
     Indication: Pain
     Dosage: 30 MG, BID
     Route: 048
     Dates: start: 201509
  788. MORPHINE [Concomitant]
     Active Substance: MORPHINE
     Dosage: 30 MG (EVERY 0.5 DAY)
     Route: 048
     Dates: start: 201509
  789. MORPHINE [Concomitant]
     Active Substance: MORPHINE
     Dosage: 30 MILLIGRAM, BID/SEP-2015(EVERY 0.5 DAY)
     Route: 048
     Dates: start: 201509
  790. MORPHINE [Concomitant]
     Active Substance: MORPHINE
     Dosage: 60 MG, QD
     Route: 048
     Dates: start: 201509
  791. MORPHINE [Concomitant]
     Active Substance: MORPHINE
     Dosage: 30 MILLIGRAM
     Dates: start: 201509
  792. MORPHINE [Concomitant]
     Active Substance: MORPHINE
     Dosage: 10 MILLIGRAM
     Dates: start: 201509
  793. MORPHINE [Concomitant]
     Active Substance: MORPHINE
     Dosage: 15 MILLIGRAM, QD
     Route: 048
     Dates: start: 201509
  794. MORPHINE [Concomitant]
     Active Substance: MORPHINE
     Dosage: 15 MILLIGRAM, QD, DAILY
     Route: 048
     Dates: start: 201509
  795. MORPHINE [Concomitant]
     Active Substance: MORPHINE
     Dosage: 15 MILLIGRAM, QD
     Route: 048
     Dates: start: 201510
  796. MORPHINE [Concomitant]
     Active Substance: MORPHINE
     Dosage: 30 MILLIGRAM, BID
     Dates: start: 201509
  797. ORAMORPH SR SUSTAINED RELEASE [Concomitant]
     Active Substance: MORPHINE SULFATE
     Indication: Product used for unknown indication
     Dosage: 10 MG (AS NECESSARY)
     Route: 065
     Dates: start: 201509
  798. ORAMORPH SR SUSTAINED RELEASE [Concomitant]
     Active Substance: MORPHINE SULFATE
     Dosage: 10 MILLIGRAM, PRN/SEP-2015
     Route: 065
     Dates: start: 201509
  799. ORAMORPH SR SUSTAINED RELEASE [Concomitant]
     Active Substance: MORPHINE SULFATE
     Dosage: 10 MG
     Route: 065
     Dates: start: 201509
  800. ORAMORPH SR SUSTAINED RELEASE [Concomitant]
     Active Substance: MORPHINE SULFATE
     Dosage: 60 MG
     Dates: start: 201509
  801. ORAMORPH SR SUSTAINED RELEASE [Concomitant]
     Active Substance: MORPHINE SULFATE
     Dosage: 30 MG (EVERY 0.5 DAY), 30 MG BID
     Dates: start: 201509
  802. ORAMORPH SR SUSTAINED RELEASE [Concomitant]
     Active Substance: MORPHINE SULFATE
     Dosage: 15 MG, DAILY
     Dates: start: 201510
  803. ORAMORPH SR SUSTAINED RELEASE [Concomitant]
     Active Substance: MORPHINE SULFATE
     Dosage: 10 MG
     Dates: start: 201509
  804. ACETAMINOPHEN [Concomitant]
     Active Substance: ACETAMINOPHEN
     Indication: Pain
     Dosage: 500 MG, UNKNOWN
     Route: 048
     Dates: start: 20150127
  805. ACETAMINOPHEN [Concomitant]
     Active Substance: ACETAMINOPHEN
     Dosage: 500 MG (DOSE FORM 245)
     Route: 048
     Dates: start: 20150127
  806. ACETAMINOPHEN [Concomitant]
     Active Substance: ACETAMINOPHEN
     Dosage: 500 MILLIGRAM/27-JAN-2015(500 MG (DOSE FORM 245)
     Route: 048
     Dates: start: 20150127
  807. ACETAMINOPHEN [Concomitant]
     Active Substance: ACETAMINOPHEN
     Dosage: 15 MILLIGRAM, QD
     Dates: start: 201510
  808. ACETAMINOPHEN [Concomitant]
     Active Substance: ACETAMINOPHEN
     Dosage: 15 MG, DAILY, NON MAH
     Dates: start: 201510
  809. ACETAMINOPHEN [Concomitant]
     Active Substance: ACETAMINOPHEN
     Dosage: 15 MILLIGRAM, QD
  810. ACETAMINOPHEN [Concomitant]
     Active Substance: ACETAMINOPHEN
     Indication: Pain
     Dosage: 500 MG, UNKNOWN
     Dates: start: 20150127
  811. ACETAMINOPHEN [Concomitant]
     Active Substance: ACETAMINOPHEN
     Dosage: 500 MILLIGRAM
     Dates: start: 20151027
  812. PREGABALIN [Concomitant]
     Active Substance: PREGABALIN
     Indication: Product used for unknown indication
     Dosage: 75 MG, EVERY 0.5 DAY/EVERY 12 HOURS
     Route: 048
     Dates: start: 201509
  813. PREGABALIN [Concomitant]
     Active Substance: PREGABALIN
     Dosage: 75 MILLIGRAM, BID/SEP-2015(75 MG, EVERY 0.5 DAY)
     Route: 048
     Dates: start: 201509
  814. PREGABALIN [Concomitant]
     Active Substance: PREGABALIN
     Dosage: 150 MG, QD
     Dates: start: 201509
  815. PREGABALIN [Concomitant]
     Active Substance: PREGABALIN
     Dosage: 150 MILLIGRAM, BID
     Dates: start: 201509
  816. PREGABALIN [Concomitant]
     Active Substance: PREGABALIN
     Dosage: 75 MG, EVERY 0.5 DAY
     Route: 048
     Dates: start: 201509
  817. PREGABALIN [Concomitant]
     Active Substance: PREGABALIN
     Dosage: 150 MG, QD
     Route: 048
  818. PREGABALIN [Concomitant]
     Active Substance: PREGABALIN
     Dosage: 150 MG
  819. PREGABALIN [Concomitant]
     Active Substance: PREGABALIN
     Dosage: 75 MG, BID
     Dates: start: 201509
  820. PREGABALIN [Concomitant]
     Active Substance: PREGABALIN
     Dosage: 150 MILLIGRAM, QD
  821. PREGABALIN [Concomitant]
     Active Substance: PREGABALIN
     Dosage: 75 MG, EVERY 0.5 DAY
     Dates: start: 201509
  822. PREGABALIN [Concomitant]
     Active Substance: PREGABALIN
     Dosage: 150 MILLIGRAM, BID
     Dates: start: 201509
  823. PREGABALIN [Concomitant]
     Active Substance: PREGABALIN
     Dosage: STOP DATE: ??-NOV-2015 00:00
     Dates: start: 20151121
  824. RANITIDINE [Concomitant]
     Active Substance: RANITIDINE
     Indication: Gastrooesophageal reflux disease
     Dosage: 50 MG, WEEKLY (1/W)
     Route: 058
     Dates: start: 20151111
  825. RANITIDINE [Concomitant]
     Active Substance: RANITIDINE
     Dosage: 50 MG, QW (CUMULATIVE DOSE: 142.857)
     Route: 058
     Dates: start: 20151111
  826. RANITIDINE [Concomitant]
     Active Substance: RANITIDINE
     Dosage: 50 MILLIGRAM, QW,(CUMULATIVE DOSE: 142.857)
     Route: 058
     Dates: start: 20151111
  827. RANITIDINE [Concomitant]
     Active Substance: RANITIDINE
     Dosage: 50 MILLIGRAM, QWK
  828. RANITIDINE [Concomitant]
     Active Substance: RANITIDINE
     Dosage: 50 MILLIGRAM, QWK (CUMULATIVE DOSE TO FIRST REACTION: 8192.857 MG)
     Dates: start: 20151111
  829. RANITIDINE [Concomitant]
     Active Substance: RANITIDINE
     Dosage: 50 MG (CUMULATIVE DOSE: 142.857; 71.42857 MG)
     Route: 058
     Dates: start: 20151111
  830. RANITIDINE [Concomitant]
     Active Substance: RANITIDINE
     Dosage: 75 MILLIGRAM, QWK (CUMULATIVE DOSE:107.14286 MG)
     Dates: start: 20151111
  831. RANITIDINE [Concomitant]
     Active Substance: RANITIDINE
     Dosage: 150 MG, QW (50 MG, QWK)
  832. RANITIDINE [Concomitant]
     Active Substance: RANITIDINE
     Dosage: 75 MILLIGRAM
  833. RANITIDINE [Concomitant]
     Active Substance: RANITIDINE
     Dosage: 150 MG
  834. RANITIDINE [Concomitant]
     Active Substance: RANITIDINE
     Dosage: 75 MG
     Dates: start: 20151111
  835. RANITIDINE [Concomitant]
     Active Substance: RANITIDINE
     Dosage: 75 MILLIGRAM, QWK (CUMULATIVE DOSE: 214.28572 MG)
     Dates: start: 20151111
  836. RANITIDINE [Concomitant]
     Active Substance: RANITIDINE
     Dosage: 50 MILLIGRAM, QWK
  837. RANITIDINE [Concomitant]
     Active Substance: RANITIDINE
     Dosage: 50 MILLIGRAM, QWK
     Dates: start: 20151111
  838. RANITIDINE [Concomitant]
     Active Substance: RANITIDINE
     Dosage: 50 MG, WEEKLY (1/W)
  839. TAZOBACTAM SODIUM [Concomitant]
     Active Substance: TAZOBACTAM SODIUM
     Indication: Febrile neutropenia
     Dosage: UNK
     Dates: start: 20151121
  840. TAZOBACTAM SODIUM [Concomitant]
     Active Substance: TAZOBACTAM SODIUM
     Dosage: UNK
     Dates: start: 20151121
  841. PIPERACILLIN SODIUM\TAZOBACTAM SODIUM [Concomitant]
     Active Substance: PIPERACILLIN SODIUM\TAZOBACTAM SODIUM
     Indication: Febrile neutropenia
     Dosage: STOP DATE: NOV 2015
     Dates: start: 20151121
  842. PIPERACILLIN SODIUM\TAZOBACTAM SODIUM [Concomitant]
     Active Substance: PIPERACILLIN SODIUM\TAZOBACTAM SODIUM
     Dosage: UNK
     Dates: start: 20151121
  843. PIPERACILLIN SODIUM\TAZOBACTAM SODIUM [Concomitant]
     Active Substance: PIPERACILLIN SODIUM\TAZOBACTAM SODIUM
     Dosage: STOP DATE: ??-NOV-2015 00:00
     Dates: start: 20151121

REACTIONS (36)
  - Hallucination, auditory [Fatal]
  - Disease progression [Fatal]
  - Neoplasm progression [Fatal]
  - Schizophrenia [Fatal]
  - Extrapyramidal disorder [Fatal]
  - Extrapyramidal disorder [Fatal]
  - Delusion of grandeur [Fatal]
  - Lymphocyte count abnormal [Fatal]
  - Affective disorder [Fatal]
  - Neutrophil count increased [Fatal]
  - Neuropathy peripheral [Fatal]
  - Psychotic disorder [Fatal]
  - Rhinalgia [Fatal]
  - Neutropenia [Fatal]
  - Alopecia [Fatal]
  - Diarrhoea [Fatal]
  - Dyspepsia [Fatal]
  - Mucosal inflammation [Fatal]
  - Nausea [Fatal]
  - Seizure [Fatal]
  - Platelet count decreased [Fatal]
  - Fatigue [Fatal]
  - Fatigue [Fatal]
  - Fatigue [Fatal]
  - Leukopenia [Fatal]
  - Lymphocyte count decreased [Fatal]
  - Neutrophil count decreased [Fatal]
  - COVID-19 [Fatal]
  - Cellulitis [Fatal]
  - Off label use [Fatal]
  - Incorrect dose administered [Fatal]
  - Off label use [Fatal]
  - Overdose [Fatal]
  - Hospitalisation [Fatal]
  - SARS-CoV-2 test positive [Fatal]
  - Intentional product misuse [Fatal]

NARRATIVE: CASE EVENT DATE: 20151101
